FAERS Safety Report 17159231 (Version 75)
Quarter: 2025Q2

REPORT INFORMATION
  Report Type: Spontaneous
  Country: GB (occurrence: GB)
  Receive Date: 20191216
  Receipt Date: 20250609
  Transmission Date: 20250716
  Serious: Yes (Death, Hospitalization, Other)
  Sender: MYLAN
  Company Number: GB-MYLANLABS-2019M1117808

PATIENT
  Age: 59 Year
  Sex: Male
  Weight: 62 kg

DRUGS (1150)
  1. CLOZARIL [Suspect]
     Active Substance: CLOZAPINE
     Indication: Schizophrenia
     Dosage: 300 MILLIGRAM, PM
  2. CLOZARIL [Suspect]
     Active Substance: CLOZAPINE
     Dosage: 300 MILLIGRAM, PM
  3. CLOZARIL [Suspect]
     Active Substance: CLOZAPINE
     Dosage: 300 MILLIGRAM, PM
     Route: 065
  4. CLOZARIL [Suspect]
     Active Substance: CLOZAPINE
     Dosage: 300 MILLIGRAM, PM
     Route: 065
  5. CLOZARIL [Suspect]
     Active Substance: CLOZAPINE
     Dosage: 275 MILLIGRAM, QD
  6. CLOZARIL [Suspect]
     Active Substance: CLOZAPINE
     Dosage: 275 MILLIGRAM, QD
  7. CLOZARIL [Suspect]
     Active Substance: CLOZAPINE
     Dosage: 275 MILLIGRAM, QD
     Route: 065
  8. CLOZARIL [Suspect]
     Active Substance: CLOZAPINE
     Dosage: 275 MILLIGRAM, QD
     Route: 065
  9. CLOZARIL [Suspect]
     Active Substance: CLOZAPINE
     Dosage: 200 MILLIGRAM, BID
     Dates: end: 20191223
  10. CLOZARIL [Suspect]
     Active Substance: CLOZAPINE
     Dosage: 200 MILLIGRAM, BID
     Dates: end: 20191223
  11. CLOZARIL [Suspect]
     Active Substance: CLOZAPINE
     Dosage: 200 MILLIGRAM, BID
     Route: 048
     Dates: end: 20191223
  12. CLOZARIL [Suspect]
     Active Substance: CLOZAPINE
     Dosage: 200 MILLIGRAM, BID
     Route: 048
     Dates: end: 20191223
  13. CLOZARIL [Suspect]
     Active Substance: CLOZAPINE
     Dosage: 50 MILLIGRAM, QD
     Dates: start: 20191223
  14. CLOZARIL [Suspect]
     Active Substance: CLOZAPINE
     Dosage: 50 MILLIGRAM, QD
     Dates: start: 20191223
  15. CLOZARIL [Suspect]
     Active Substance: CLOZAPINE
     Dosage: 50 MILLIGRAM, QD
     Route: 065
     Dates: start: 20191223
  16. CLOZARIL [Suspect]
     Active Substance: CLOZAPINE
     Dosage: 50 MILLIGRAM, QD
     Route: 065
     Dates: start: 20191223
  17. CLOZARIL [Suspect]
     Active Substance: CLOZAPINE
     Dosage: 100 MILLIGRAM, QD
     Dates: start: 2011
  18. CLOZARIL [Suspect]
     Active Substance: CLOZAPINE
     Dosage: 100 MILLIGRAM, QD
     Dates: start: 2011
  19. CLOZARIL [Suspect]
     Active Substance: CLOZAPINE
     Dosage: 100 MILLIGRAM, QD
     Route: 065
     Dates: start: 2011
  20. CLOZARIL [Suspect]
     Active Substance: CLOZAPINE
     Dosage: 100 MILLIGRAM, QD
     Route: 065
     Dates: start: 2011
  21. CLOZARIL [Suspect]
     Active Substance: CLOZAPINE
     Dates: start: 20100823, end: 20100823
  22. CLOZARIL [Suspect]
     Active Substance: CLOZAPINE
     Dates: start: 20100823, end: 20100823
  23. CLOZARIL [Suspect]
     Active Substance: CLOZAPINE
     Route: 048
     Dates: start: 20100823, end: 20100823
  24. CLOZARIL [Suspect]
     Active Substance: CLOZAPINE
     Route: 048
     Dates: start: 20100823, end: 20100823
  25. CLOZARIL [Suspect]
     Active Substance: CLOZAPINE
  26. CLOZARIL [Suspect]
     Active Substance: CLOZAPINE
  27. CLOZARIL [Suspect]
     Active Substance: CLOZAPINE
     Route: 048
  28. CLOZARIL [Suspect]
     Active Substance: CLOZAPINE
     Route: 048
  29. CLOZARIL [Suspect]
     Active Substance: CLOZAPINE
     Dates: start: 20191209, end: 20191223
  30. CLOZARIL [Suspect]
     Active Substance: CLOZAPINE
     Dates: start: 20191209, end: 20191223
  31. CLOZARIL [Suspect]
     Active Substance: CLOZAPINE
     Route: 048
     Dates: start: 20191209, end: 20191223
  32. CLOZARIL [Suspect]
     Active Substance: CLOZAPINE
     Route: 048
     Dates: start: 20191209, end: 20191223
  33. CLOZARIL [Suspect]
     Active Substance: CLOZAPINE
     Dosage: 275 MILLIGRAM, QD, STOP DATE 2020
     Dates: start: 20200521
  34. CLOZARIL [Suspect]
     Active Substance: CLOZAPINE
     Dosage: 275 MILLIGRAM, QD, STOP DATE 2020
     Dates: start: 20200521
  35. CLOZARIL [Suspect]
     Active Substance: CLOZAPINE
     Dosage: 275 MILLIGRAM, QD, STOP DATE 2020
     Route: 048
     Dates: start: 20200521
  36. CLOZARIL [Suspect]
     Active Substance: CLOZAPINE
     Dosage: 275 MILLIGRAM, QD, STOP DATE 2020
     Route: 048
     Dates: start: 20200521
  37. CLOZARIL [Suspect]
     Active Substance: CLOZAPINE
  38. CLOZARIL [Suspect]
     Active Substance: CLOZAPINE
  39. CLOZARIL [Suspect]
     Active Substance: CLOZAPINE
     Route: 048
  40. CLOZARIL [Suspect]
     Active Substance: CLOZAPINE
     Route: 048
  41. CLOZARIL [Suspect]
     Active Substance: CLOZAPINE
     Dosage: 400 MILLIGRAM, QD
     Dates: start: 20191209
  42. CLOZARIL [Suspect]
     Active Substance: CLOZAPINE
     Dosage: 400 MILLIGRAM, QD
     Dates: start: 20191209
  43. CLOZARIL [Suspect]
     Active Substance: CLOZAPINE
     Dosage: 400 MILLIGRAM, QD
     Route: 048
     Dates: start: 20191209
  44. CLOZARIL [Suspect]
     Active Substance: CLOZAPINE
     Dosage: 400 MILLIGRAM, QD
     Route: 048
     Dates: start: 20191209
  45. CLOZARIL [Suspect]
     Active Substance: CLOZAPINE
     Dates: start: 20191223, end: 20191223
  46. CLOZARIL [Suspect]
     Active Substance: CLOZAPINE
     Dates: start: 20191223, end: 20191223
  47. CLOZARIL [Suspect]
     Active Substance: CLOZAPINE
     Route: 048
     Dates: start: 20191223, end: 20191223
  48. CLOZARIL [Suspect]
     Active Substance: CLOZAPINE
     Route: 048
     Dates: start: 20191223, end: 20191223
  49. CLOZARIL [Suspect]
     Active Substance: CLOZAPINE
     Dosage: 200 MILLIGRAM, ONCE A DAY, 200 MILLIGRAM, BID
     Dates: end: 20191223
  50. CLOZARIL [Suspect]
     Active Substance: CLOZAPINE
     Dosage: 200 MILLIGRAM, ONCE A DAY, 200 MILLIGRAM, BID
     Dates: end: 20191223
  51. CLOZARIL [Suspect]
     Active Substance: CLOZAPINE
     Dosage: 200 MILLIGRAM, ONCE A DAY, 200 MILLIGRAM, BID
     Route: 048
     Dates: end: 20191223
  52. CLOZARIL [Suspect]
     Active Substance: CLOZAPINE
     Dosage: 200 MILLIGRAM, ONCE A DAY, 200 MILLIGRAM, BID
     Route: 048
     Dates: end: 20191223
  53. CLOZARIL [Suspect]
     Active Substance: CLOZAPINE
     Dosage: 400 MILLIGRAM, QD
  54. CLOZARIL [Suspect]
     Active Substance: CLOZAPINE
     Dosage: 400 MILLIGRAM, QD
  55. CLOZARIL [Suspect]
     Active Substance: CLOZAPINE
     Dosage: 400 MILLIGRAM, QD
     Route: 065
  56. CLOZARIL [Suspect]
     Active Substance: CLOZAPINE
     Dosage: 400 MILLIGRAM, QD
     Route: 065
  57. CLOZARIL [Suspect]
     Active Substance: CLOZAPINE
     Dates: start: 20191219, end: 20191223
  58. CLOZARIL [Suspect]
     Active Substance: CLOZAPINE
     Dates: start: 20191219, end: 20191223
  59. CLOZARIL [Suspect]
     Active Substance: CLOZAPINE
     Route: 048
     Dates: start: 20191219, end: 20191223
  60. CLOZARIL [Suspect]
     Active Substance: CLOZAPINE
     Route: 048
     Dates: start: 20191219, end: 20191223
  61. CLOZARIL [Suspect]
     Active Substance: CLOZAPINE
  62. CLOZARIL [Suspect]
     Active Substance: CLOZAPINE
  63. CLOZARIL [Suspect]
     Active Substance: CLOZAPINE
     Route: 048
  64. CLOZARIL [Suspect]
     Active Substance: CLOZAPINE
     Route: 048
  65. CLOZARIL [Suspect]
     Active Substance: CLOZAPINE
     Dosage: 245 MILLIGRAM, QD
     Dates: start: 20191207
  66. CLOZARIL [Suspect]
     Active Substance: CLOZAPINE
     Dosage: 245 MILLIGRAM, QD
     Dates: start: 20191207
  67. CLOZARIL [Suspect]
     Active Substance: CLOZAPINE
     Dosage: 245 MILLIGRAM, QD
     Route: 065
     Dates: start: 20191207
  68. CLOZARIL [Suspect]
     Active Substance: CLOZAPINE
     Dosage: 245 MILLIGRAM, QD
     Route: 065
     Dates: start: 20191207
  69. CLOZARIL [Suspect]
     Active Substance: CLOZAPINE
     Dates: start: 20191207, end: 20191223
  70. CLOZARIL [Suspect]
     Active Substance: CLOZAPINE
     Dates: start: 20191207, end: 20191223
  71. CLOZARIL [Suspect]
     Active Substance: CLOZAPINE
     Route: 048
     Dates: start: 20191207, end: 20191223
  72. CLOZARIL [Suspect]
     Active Substance: CLOZAPINE
     Route: 048
     Dates: start: 20191207, end: 20191223
  73. CLOZARIL [Suspect]
     Active Substance: CLOZAPINE
  74. CLOZARIL [Suspect]
     Active Substance: CLOZAPINE
  75. CLOZARIL [Suspect]
     Active Substance: CLOZAPINE
     Route: 048
  76. CLOZARIL [Suspect]
     Active Substance: CLOZAPINE
     Route: 048
  77. CLOZARIL [Suspect]
     Active Substance: CLOZAPINE
     Dosage: 400 MILLIGRAM, QD
     Dates: end: 20191223
  78. CLOZARIL [Suspect]
     Active Substance: CLOZAPINE
     Dosage: 400 MILLIGRAM, QD
     Dates: end: 20191223
  79. CLOZARIL [Suspect]
     Active Substance: CLOZAPINE
     Dosage: 400 MILLIGRAM, QD
     Route: 065
     Dates: end: 20191223
  80. CLOZARIL [Suspect]
     Active Substance: CLOZAPINE
     Dosage: 400 MILLIGRAM, QD
     Route: 065
     Dates: end: 20191223
  81. CLOZARIL [Suspect]
     Active Substance: CLOZAPINE
  82. CLOZARIL [Suspect]
     Active Substance: CLOZAPINE
  83. CLOZARIL [Suspect]
     Active Substance: CLOZAPINE
     Route: 048
  84. CLOZARIL [Suspect]
     Active Substance: CLOZAPINE
     Route: 048
  85. CLOZARIL [Suspect]
     Active Substance: CLOZAPINE
     Dosage: 800 MILLIGRAM, QD
     Dates: start: 20201207
  86. CLOZARIL [Suspect]
     Active Substance: CLOZAPINE
     Dosage: 800 MILLIGRAM, QD
     Dates: start: 20201207
  87. CLOZARIL [Suspect]
     Active Substance: CLOZAPINE
     Dosage: 800 MILLIGRAM, QD
     Route: 048
     Dates: start: 20201207
  88. CLOZARIL [Suspect]
     Active Substance: CLOZAPINE
     Dosage: 800 MILLIGRAM, QD
     Route: 048
     Dates: start: 20201207
  89. CLOZARIL [Suspect]
     Active Substance: CLOZAPINE
  90. CLOZARIL [Suspect]
     Active Substance: CLOZAPINE
  91. CLOZARIL [Suspect]
     Active Substance: CLOZAPINE
     Route: 048
  92. CLOZARIL [Suspect]
     Active Substance: CLOZAPINE
     Route: 048
  93. CLOZARIL [Suspect]
     Active Substance: CLOZAPINE
  94. CLOZARIL [Suspect]
     Active Substance: CLOZAPINE
  95. CLOZARIL [Suspect]
     Active Substance: CLOZAPINE
     Route: 065
  96. CLOZARIL [Suspect]
     Active Substance: CLOZAPINE
     Route: 065
  97. CLOZARIL [Suspect]
     Active Substance: CLOZAPINE
     Dosage: 400 MILLIGRAM, QD
     Dates: start: 20191223, end: 20191223
  98. CLOZARIL [Suspect]
     Active Substance: CLOZAPINE
     Dosage: 400 MILLIGRAM, QD
     Dates: start: 20191223, end: 20191223
  99. CLOZARIL [Suspect]
     Active Substance: CLOZAPINE
     Dosage: 400 MILLIGRAM, QD
     Route: 048
     Dates: start: 20191223, end: 20191223
  100. CLOZARIL [Suspect]
     Active Substance: CLOZAPINE
     Dosage: 400 MILLIGRAM, QD
     Route: 048
     Dates: start: 20191223, end: 20191223
  101. CLOZARIL [Suspect]
     Active Substance: CLOZAPINE
     Dosage: 400 MILLIGRAM, QD
  102. CLOZARIL [Suspect]
     Active Substance: CLOZAPINE
     Dosage: 400 MILLIGRAM, QD
  103. CLOZARIL [Suspect]
     Active Substance: CLOZAPINE
     Dosage: 400 MILLIGRAM, QD
     Route: 048
  104. CLOZARIL [Suspect]
     Active Substance: CLOZAPINE
     Dosage: 400 MILLIGRAM, QD
     Route: 048
  105. CLOZARIL [Suspect]
     Active Substance: CLOZAPINE
  106. CLOZARIL [Suspect]
     Active Substance: CLOZAPINE
  107. CLOZARIL [Suspect]
     Active Substance: CLOZAPINE
     Route: 048
  108. CLOZARIL [Suspect]
     Active Substance: CLOZAPINE
     Route: 048
  109. CLOZARIL [Suspect]
     Active Substance: CLOZAPINE
     Dosage: 400 MILLIGRAM, QD
     Dates: start: 20201207
  110. CLOZARIL [Suspect]
     Active Substance: CLOZAPINE
     Dosage: 400 MILLIGRAM, QD
     Dates: start: 20201207
  111. CLOZARIL [Suspect]
     Active Substance: CLOZAPINE
     Dosage: 400 MILLIGRAM, QD
     Route: 048
     Dates: start: 20201207
  112. CLOZARIL [Suspect]
     Active Substance: CLOZAPINE
     Dosage: 400 MILLIGRAM, QD
     Route: 048
     Dates: start: 20201207
  113. CLOZARIL [Suspect]
     Active Substance: CLOZAPINE
  114. CLOZARIL [Suspect]
     Active Substance: CLOZAPINE
  115. CLOZARIL [Suspect]
     Active Substance: CLOZAPINE
     Route: 048
  116. CLOZARIL [Suspect]
     Active Substance: CLOZAPINE
     Route: 048
  117. CLOZARIL [Suspect]
     Active Substance: CLOZAPINE
     Dosage: 50 MILLIGRAM, QD
     Dates: end: 20191223
  118. CLOZARIL [Suspect]
     Active Substance: CLOZAPINE
     Dosage: 50 MILLIGRAM, QD
     Dates: end: 20191223
  119. CLOZARIL [Suspect]
     Active Substance: CLOZAPINE
     Dosage: 50 MILLIGRAM, QD
     Route: 048
     Dates: end: 20191223
  120. CLOZARIL [Suspect]
     Active Substance: CLOZAPINE
     Dosage: 50 MILLIGRAM, QD
     Route: 048
     Dates: end: 20191223
  121. CLOZARIL [Suspect]
     Active Substance: CLOZAPINE
     Dosage: 245 MILLIGRAM, QD
     Dates: start: 20191223, end: 20191223
  122. CLOZARIL [Suspect]
     Active Substance: CLOZAPINE
     Dosage: 245 MILLIGRAM, QD
     Dates: start: 20191223, end: 20191223
  123. CLOZARIL [Suspect]
     Active Substance: CLOZAPINE
     Dosage: 245 MILLIGRAM, QD
     Route: 048
     Dates: start: 20191223, end: 20191223
  124. CLOZARIL [Suspect]
     Active Substance: CLOZAPINE
     Dosage: 245 MILLIGRAM, QD
     Route: 048
     Dates: start: 20191223, end: 20191223
  125. CLOZARIL [Suspect]
     Active Substance: CLOZAPINE
     Dosage: 400 MILLIGRAM, QD
     Dates: start: 20191223, end: 20191223
  126. CLOZARIL [Suspect]
     Active Substance: CLOZAPINE
     Dosage: 400 MILLIGRAM, QD
     Dates: start: 20191223, end: 20191223
  127. CLOZARIL [Suspect]
     Active Substance: CLOZAPINE
     Dosage: 400 MILLIGRAM, QD
     Route: 065
     Dates: start: 20191223, end: 20191223
  128. CLOZARIL [Suspect]
     Active Substance: CLOZAPINE
     Dosage: 400 MILLIGRAM, QD
     Route: 065
     Dates: start: 20191223, end: 20191223
  129. CLOZARIL [Suspect]
     Active Substance: CLOZAPINE
     Dates: start: 20100823, end: 20191207
  130. CLOZARIL [Suspect]
     Active Substance: CLOZAPINE
     Dates: start: 20100823, end: 20191207
  131. CLOZARIL [Suspect]
     Active Substance: CLOZAPINE
     Route: 048
     Dates: start: 20100823, end: 20191207
  132. CLOZARIL [Suspect]
     Active Substance: CLOZAPINE
     Route: 048
     Dates: start: 20100823, end: 20191207
  133. CLOZARIL [Suspect]
     Active Substance: CLOZAPINE
     Dosage: 200 MILLIGRAM, BID
     Dates: start: 20191209, end: 20191223
  134. CLOZARIL [Suspect]
     Active Substance: CLOZAPINE
     Dosage: 200 MILLIGRAM, BID
     Dates: start: 20191209, end: 20191223
  135. CLOZARIL [Suspect]
     Active Substance: CLOZAPINE
     Dosage: 200 MILLIGRAM, BID
     Route: 048
     Dates: start: 20191209, end: 20191223
  136. CLOZARIL [Suspect]
     Active Substance: CLOZAPINE
     Dosage: 200 MILLIGRAM, BID
     Route: 048
     Dates: start: 20191209, end: 20191223
  137. CLOZARIL [Suspect]
     Active Substance: CLOZAPINE
  138. CLOZARIL [Suspect]
     Active Substance: CLOZAPINE
  139. CLOZARIL [Suspect]
     Active Substance: CLOZAPINE
     Route: 048
  140. CLOZARIL [Suspect]
     Active Substance: CLOZAPINE
     Route: 048
  141. CLOZARIL [Suspect]
     Active Substance: CLOZAPINE
  142. CLOZARIL [Suspect]
     Active Substance: CLOZAPINE
  143. CLOZARIL [Suspect]
     Active Substance: CLOZAPINE
     Route: 048
  144. CLOZARIL [Suspect]
     Active Substance: CLOZAPINE
     Route: 048
  145. CLOZARIL [Suspect]
     Active Substance: CLOZAPINE
     Dosage: 300 MILLIGRAM, QD
     Dates: start: 20100823
  146. CLOZARIL [Suspect]
     Active Substance: CLOZAPINE
     Dosage: 300 MILLIGRAM, QD
     Dates: start: 20100823
  147. CLOZARIL [Suspect]
     Active Substance: CLOZAPINE
     Dosage: 300 MILLIGRAM, QD
     Route: 065
     Dates: start: 20100823
  148. CLOZARIL [Suspect]
     Active Substance: CLOZAPINE
     Dosage: 300 MILLIGRAM, QD
     Route: 065
     Dates: start: 20100823
  149. CLOZARIL [Suspect]
     Active Substance: CLOZAPINE
     Dosage: 600 MILLIGRAM, QD
     Dates: start: 2011
  150. CLOZARIL [Suspect]
     Active Substance: CLOZAPINE
     Dosage: 600 MILLIGRAM, QD
     Dates: start: 2011
  151. CLOZARIL [Suspect]
     Active Substance: CLOZAPINE
     Dosage: 600 MILLIGRAM, QD
     Route: 048
     Dates: start: 2011
  152. CLOZARIL [Suspect]
     Active Substance: CLOZAPINE
     Dosage: 600 MILLIGRAM, QD
     Route: 048
     Dates: start: 2011
  153. CLOZARIL [Suspect]
     Active Substance: CLOZAPINE
  154. CLOZARIL [Suspect]
     Active Substance: CLOZAPINE
  155. CLOZARIL [Suspect]
     Active Substance: CLOZAPINE
     Route: 048
  156. CLOZARIL [Suspect]
     Active Substance: CLOZAPINE
     Route: 048
  157. CLOZARIL [Suspect]
     Active Substance: CLOZAPINE
     Dosage: 50 MG, QD (MIDDAY)
     Dates: start: 20200521
  158. CLOZARIL [Suspect]
     Active Substance: CLOZAPINE
     Dosage: 50 MG, QD (MIDDAY)
     Dates: start: 20200521
  159. CLOZARIL [Suspect]
     Active Substance: CLOZAPINE
     Dosage: 50 MG, QD (MIDDAY)
     Route: 065
     Dates: start: 20200521
  160. CLOZARIL [Suspect]
     Active Substance: CLOZAPINE
     Dosage: 50 MG, QD (MIDDAY)
     Route: 065
     Dates: start: 20200521
  161. CLOZARIL [Suspect]
     Active Substance: CLOZAPINE
     Dosage: 50 MG, QD(1X/DAY (MIDDAY))
  162. CLOZARIL [Suspect]
     Active Substance: CLOZAPINE
     Dosage: 50 MG, QD(1X/DAY (MIDDAY))
  163. CLOZARIL [Suspect]
     Active Substance: CLOZAPINE
     Dosage: 50 MG, QD(1X/DAY (MIDDAY))
     Route: 065
  164. CLOZARIL [Suspect]
     Active Substance: CLOZAPINE
     Dosage: 50 MG, QD(1X/DAY (MIDDAY))
     Route: 065
  165. CLOZARIL [Suspect]
     Active Substance: CLOZAPINE
     Dosage: 50 MG, QD
     Dates: start: 20191209, end: 20191223
  166. CLOZARIL [Suspect]
     Active Substance: CLOZAPINE
     Dosage: 50 MG, QD
     Dates: start: 20191209, end: 20191223
  167. CLOZARIL [Suspect]
     Active Substance: CLOZAPINE
     Dosage: 50 MG, QD
     Route: 065
     Dates: start: 20191209, end: 20191223
  168. CLOZARIL [Suspect]
     Active Substance: CLOZAPINE
     Dosage: 50 MG, QD
     Route: 065
     Dates: start: 20191209, end: 20191223
  169. CLOZARIL [Suspect]
     Active Substance: CLOZAPINE
     Dosage: 400 MILLIGRAM, BID
  170. CLOZARIL [Suspect]
     Active Substance: CLOZAPINE
     Dosage: 400 MILLIGRAM, BID
  171. CLOZARIL [Suspect]
     Active Substance: CLOZAPINE
     Dosage: 400 MILLIGRAM, BID
     Route: 065
  172. CLOZARIL [Suspect]
     Active Substance: CLOZAPINE
     Dosage: 400 MILLIGRAM, BID
     Route: 065
  173. CLOZARIL [Suspect]
     Active Substance: CLOZAPINE
     Dosage: 400 MILLIGRAM, BID
  174. CLOZARIL [Suspect]
     Active Substance: CLOZAPINE
     Dosage: 400 MILLIGRAM, BID
  175. CLOZARIL [Suspect]
     Active Substance: CLOZAPINE
     Dosage: 400 MILLIGRAM, BID
     Route: 065
  176. CLOZARIL [Suspect]
     Active Substance: CLOZAPINE
     Dosage: 400 MILLIGRAM, BID
     Route: 065
  177. CLOZARIL [Suspect]
     Active Substance: CLOZAPINE
  178. CLOZARIL [Suspect]
     Active Substance: CLOZAPINE
  179. HALOPERIDOL [Suspect]
     Active Substance: HALOPERIDOL
     Indication: Schizophrenia
     Dosage: 10 MG, QD, 5 MILLIGRAM, BID
  180. HALOPERIDOL [Suspect]
     Active Substance: HALOPERIDOL
     Dosage: 10 MG, QD, 5 MILLIGRAM, BID
  181. HALOPERIDOL [Suspect]
     Active Substance: HALOPERIDOL
     Dosage: 10 MG, QD, 5 MILLIGRAM, BID
     Route: 065
  182. HALOPERIDOL [Suspect]
     Active Substance: HALOPERIDOL
     Dosage: 10 MG, QD, 5 MILLIGRAM, BID
     Route: 065
  183. HALOPERIDOL [Suspect]
     Active Substance: HALOPERIDOL
     Dosage: 20 MG, QD
  184. HALOPERIDOL [Suspect]
     Active Substance: HALOPERIDOL
     Dosage: 20 MG, QD
  185. HALOPERIDOL [Suspect]
     Active Substance: HALOPERIDOL
     Dosage: 20 MG, QD
     Route: 065
  186. HALOPERIDOL [Suspect]
     Active Substance: HALOPERIDOL
     Dosage: 20 MG, QD
     Route: 065
  187. HALOPERIDOL [Suspect]
     Active Substance: HALOPERIDOL
     Dosage: 10 MG, QD
  188. HALOPERIDOL [Suspect]
     Active Substance: HALOPERIDOL
     Dosage: 10 MG, QD
  189. HALOPERIDOL [Suspect]
     Active Substance: HALOPERIDOL
     Dosage: 10 MG, QD
     Route: 065
  190. HALOPERIDOL [Suspect]
     Active Substance: HALOPERIDOL
     Dosage: 10 MG, QD
     Route: 065
  191. HALOPERIDOL [Suspect]
     Active Substance: HALOPERIDOL
     Dosage: 40 MG, QD,20MG BID
  192. HALOPERIDOL [Suspect]
     Active Substance: HALOPERIDOL
     Dosage: 40 MG, QD,20MG BID
  193. HALOPERIDOL [Suspect]
     Active Substance: HALOPERIDOL
     Dosage: 40 MG, QD,20MG BID
     Route: 065
  194. HALOPERIDOL [Suspect]
     Active Substance: HALOPERIDOL
     Dosage: 40 MG, QD,20MG BID
     Route: 065
  195. HALOPERIDOL [Suspect]
     Active Substance: HALOPERIDOL
     Dosage: 10 MG, BID
  196. HALOPERIDOL [Suspect]
     Active Substance: HALOPERIDOL
     Dosage: 10 MG, BID
  197. HALOPERIDOL [Suspect]
     Active Substance: HALOPERIDOL
     Dosage: 10 MG, BID
     Route: 065
  198. HALOPERIDOL [Suspect]
     Active Substance: HALOPERIDOL
     Dosage: 10 MG, BID
     Route: 065
  199. HALOPERIDOL [Suspect]
     Active Substance: HALOPERIDOL
     Dosage: 40 MILLIGRAM, QD
  200. HALOPERIDOL [Suspect]
     Active Substance: HALOPERIDOL
     Dosage: 40 MILLIGRAM, QD
  201. HALOPERIDOL [Suspect]
     Active Substance: HALOPERIDOL
     Dosage: 40 MILLIGRAM, QD
     Route: 048
  202. HALOPERIDOL [Suspect]
     Active Substance: HALOPERIDOL
     Dosage: 40 MILLIGRAM, QD
     Route: 048
  203. HALOPERIDOL [Suspect]
     Active Substance: HALOPERIDOL
     Dosage: 20 MG, QD
  204. HALOPERIDOL [Suspect]
     Active Substance: HALOPERIDOL
     Dosage: 20 MG, QD
  205. HALOPERIDOL [Suspect]
     Active Substance: HALOPERIDOL
     Dosage: 20 MG, QD
     Route: 065
  206. HALOPERIDOL [Suspect]
     Active Substance: HALOPERIDOL
     Dosage: 20 MG, QD
     Route: 065
  207. HALOPERIDOL [Suspect]
     Active Substance: HALOPERIDOL
     Dosage: 5 MILLIGRAM, BID(2X/DAY)
  208. HALOPERIDOL [Suspect]
     Active Substance: HALOPERIDOL
     Dosage: 5 MILLIGRAM, BID(2X/DAY)
  209. HALOPERIDOL [Suspect]
     Active Substance: HALOPERIDOL
     Dosage: 5 MILLIGRAM, BID(2X/DAY)
     Route: 065
  210. HALOPERIDOL [Suspect]
     Active Substance: HALOPERIDOL
     Dosage: 5 MILLIGRAM, BID(2X/DAY)
     Route: 065
  211. HALOPERIDOL [Suspect]
     Active Substance: HALOPERIDOL
     Dosage: 5 MILLIGRAM, ONCE A DAY
  212. HALOPERIDOL [Suspect]
     Active Substance: HALOPERIDOL
     Dosage: 5 MILLIGRAM, ONCE A DAY
  213. HALOPERIDOL [Suspect]
     Active Substance: HALOPERIDOL
     Dosage: 5 MILLIGRAM, ONCE A DAY
     Route: 065
  214. HALOPERIDOL [Suspect]
     Active Substance: HALOPERIDOL
     Dosage: 5 MILLIGRAM, ONCE A DAY
     Route: 065
  215. HALOPERIDOL [Suspect]
     Active Substance: HALOPERIDOL
     Dosage: 20 MG, BID
  216. HALOPERIDOL [Suspect]
     Active Substance: HALOPERIDOL
     Dosage: 20 MG, BID
  217. HALOPERIDOL [Suspect]
     Active Substance: HALOPERIDOL
     Dosage: 20 MG, BID
     Route: 048
  218. HALOPERIDOL [Suspect]
     Active Substance: HALOPERIDOL
     Dosage: 20 MG, BID
     Route: 048
  219. HALOPERIDOL [Suspect]
     Active Substance: HALOPERIDOL
     Dosage: 10 MG, DAILY
  220. HALOPERIDOL [Suspect]
     Active Substance: HALOPERIDOL
     Dosage: 10 MG, DAILY
  221. HALOPERIDOL [Suspect]
     Active Substance: HALOPERIDOL
     Dosage: 10 MG, DAILY
     Route: 048
  222. HALOPERIDOL [Suspect]
     Active Substance: HALOPERIDOL
     Dosage: 10 MG, DAILY
     Route: 048
  223. HALOPERIDOL [Suspect]
     Active Substance: HALOPERIDOL
     Dosage: 5 MG, DAILY
  224. HALOPERIDOL [Suspect]
     Active Substance: HALOPERIDOL
     Dosage: 5 MG, DAILY
  225. HALOPERIDOL [Suspect]
     Active Substance: HALOPERIDOL
     Dosage: 5 MG, DAILY
     Route: 048
  226. HALOPERIDOL [Suspect]
     Active Substance: HALOPERIDOL
     Dosage: 5 MG, DAILY
     Route: 048
  227. HALOPERIDOL [Suspect]
     Active Substance: HALOPERIDOL
     Dosage: 10 MG, BID
  228. HALOPERIDOL [Suspect]
     Active Substance: HALOPERIDOL
     Dosage: 10 MG, BID
  229. HALOPERIDOL [Suspect]
     Active Substance: HALOPERIDOL
     Dosage: 10 MG, BID
     Route: 048
  230. HALOPERIDOL [Suspect]
     Active Substance: HALOPERIDOL
     Dosage: 10 MG, BID
     Route: 048
  231. HALOPERIDOL [Suspect]
     Active Substance: HALOPERIDOL
     Dosage: 5 MG, BID
  232. HALOPERIDOL [Suspect]
     Active Substance: HALOPERIDOL
     Dosage: 5 MG, BID
  233. HALOPERIDOL [Suspect]
     Active Substance: HALOPERIDOL
     Dosage: 5 MG, BID
     Route: 048
  234. HALOPERIDOL [Suspect]
     Active Substance: HALOPERIDOL
     Dosage: 5 MG, BID
     Route: 048
  235. HALOPERIDOL [Suspect]
     Active Substance: HALOPERIDOL
     Dosage: 10 MG, BID
  236. HALOPERIDOL [Suspect]
     Active Substance: HALOPERIDOL
     Dosage: 10 MG, BID
  237. HALOPERIDOL [Suspect]
     Active Substance: HALOPERIDOL
     Dosage: 10 MG, BID
     Route: 048
  238. HALOPERIDOL [Suspect]
     Active Substance: HALOPERIDOL
     Dosage: 10 MG, BID
     Route: 048
  239. HALOPERIDOL [Suspect]
     Active Substance: HALOPERIDOL
     Dosage: 10 MG, BID
  240. HALOPERIDOL [Suspect]
     Active Substance: HALOPERIDOL
     Dosage: 10 MG, BID
  241. HALOPERIDOL [Suspect]
     Active Substance: HALOPERIDOL
     Dosage: 10 MG, BID
     Route: 048
  242. HALOPERIDOL [Suspect]
     Active Substance: HALOPERIDOL
     Dosage: 10 MG, BID
     Route: 048
  243. HALOPERIDOL [Suspect]
     Active Substance: HALOPERIDOL
     Dosage: 5 MG, BID
  244. HALOPERIDOL [Suspect]
     Active Substance: HALOPERIDOL
     Dosage: 5 MG, BID
  245. HALOPERIDOL [Suspect]
     Active Substance: HALOPERIDOL
     Dosage: 5 MG, BID
     Route: 065
  246. HALOPERIDOL [Suspect]
     Active Substance: HALOPERIDOL
     Dosage: 5 MG, BID
     Route: 065
  247. HALOPERIDOL [Suspect]
     Active Substance: HALOPERIDOL
     Dosage: 40 MG, QD
  248. HALOPERIDOL [Suspect]
     Active Substance: HALOPERIDOL
     Dosage: 40 MG, QD
  249. HALOPERIDOL [Suspect]
     Active Substance: HALOPERIDOL
     Dosage: 40 MG, QD
     Route: 065
  250. HALOPERIDOL [Suspect]
     Active Substance: HALOPERIDOL
     Dosage: 40 MG, QD
     Route: 065
  251. HALOPERIDOL [Suspect]
     Active Substance: HALOPERIDOL
     Dosage: 40 MILLIGRAM, ONCE A DAY (20MG BID)
  252. HALOPERIDOL [Suspect]
     Active Substance: HALOPERIDOL
     Dosage: 40 MILLIGRAM, ONCE A DAY (20MG BID)
  253. HALOPERIDOL [Suspect]
     Active Substance: HALOPERIDOL
     Dosage: 40 MILLIGRAM, ONCE A DAY (20MG BID)
     Route: 065
  254. HALOPERIDOL [Suspect]
     Active Substance: HALOPERIDOL
     Dosage: 40 MILLIGRAM, ONCE A DAY (20MG BID)
     Route: 065
  255. HALOPERIDOL [Suspect]
     Active Substance: HALOPERIDOL
     Dosage: 10 MILLIGRAM, ONCE A DAY (5 MILLIGRAM, BID)
  256. HALOPERIDOL [Suspect]
     Active Substance: HALOPERIDOL
     Dosage: 10 MILLIGRAM, ONCE A DAY (5 MILLIGRAM, BID)
  257. HALOPERIDOL [Suspect]
     Active Substance: HALOPERIDOL
     Dosage: 10 MILLIGRAM, ONCE A DAY (5 MILLIGRAM, BID)
     Route: 065
  258. HALOPERIDOL [Suspect]
     Active Substance: HALOPERIDOL
     Dosage: 10 MILLIGRAM, ONCE A DAY (5 MILLIGRAM, BID)
     Route: 065
  259. HALOPERIDOL [Suspect]
     Active Substance: HALOPERIDOL
     Dosage: 20 MILLIGRAM, TWO TIMES A DAY (10 MG, 2X/DAY)
  260. HALOPERIDOL [Suspect]
     Active Substance: HALOPERIDOL
     Dosage: 20 MILLIGRAM, TWO TIMES A DAY (10 MG, 2X/DAY)
  261. HALOPERIDOL [Suspect]
     Active Substance: HALOPERIDOL
     Dosage: 20 MILLIGRAM, TWO TIMES A DAY (10 MG, 2X/DAY)
     Route: 065
  262. HALOPERIDOL [Suspect]
     Active Substance: HALOPERIDOL
     Dosage: 20 MILLIGRAM, TWO TIMES A DAY (10 MG, 2X/DAY)
     Route: 065
  263. HALOPERIDOL [Suspect]
     Active Substance: HALOPERIDOL
     Dosage: 10 MG, QD
  264. HALOPERIDOL [Suspect]
     Active Substance: HALOPERIDOL
     Dosage: 10 MG, QD
  265. HALOPERIDOL [Suspect]
     Active Substance: HALOPERIDOL
     Dosage: 10 MG, QD
     Route: 065
  266. HALOPERIDOL [Suspect]
     Active Substance: HALOPERIDOL
     Dosage: 10 MG, QD
     Route: 065
  267. HALOPERIDOL [Suspect]
     Active Substance: HALOPERIDOL
     Dosage: 40 MILLIGRAM, QD
  268. HALOPERIDOL [Suspect]
     Active Substance: HALOPERIDOL
     Dosage: 40 MILLIGRAM, QD
  269. HALOPERIDOL [Suspect]
     Active Substance: HALOPERIDOL
     Dosage: 40 MILLIGRAM, QD
     Route: 048
  270. HALOPERIDOL [Suspect]
     Active Substance: HALOPERIDOL
     Dosage: 40 MILLIGRAM, QD
     Route: 048
  271. HALOPERIDOL [Suspect]
     Active Substance: HALOPERIDOL
     Dosage: 20 MG, QD
  272. HALOPERIDOL [Suspect]
     Active Substance: HALOPERIDOL
     Dosage: 20 MG, QD
  273. HALOPERIDOL [Suspect]
     Active Substance: HALOPERIDOL
     Dosage: 20 MG, QD
     Route: 065
  274. HALOPERIDOL [Suspect]
     Active Substance: HALOPERIDOL
     Dosage: 20 MG, QD
     Route: 065
  275. HALOPERIDOL [Suspect]
     Active Substance: HALOPERIDOL
     Dosage: 5 MILLIGRAM, ONCE A DAY
  276. HALOPERIDOL [Suspect]
     Active Substance: HALOPERIDOL
     Dosage: 5 MILLIGRAM, ONCE A DAY
  277. HALOPERIDOL [Suspect]
     Active Substance: HALOPERIDOL
     Dosage: 5 MILLIGRAM, ONCE A DAY
     Route: 065
  278. HALOPERIDOL [Suspect]
     Active Substance: HALOPERIDOL
     Dosage: 5 MILLIGRAM, ONCE A DAY
     Route: 065
  279. HALOPERIDOL [Suspect]
     Active Substance: HALOPERIDOL
  280. HALOPERIDOL [Suspect]
     Active Substance: HALOPERIDOL
  281. HALOPERIDOL [Suspect]
     Active Substance: HALOPERIDOL
     Route: 065
  282. HALOPERIDOL [Suspect]
     Active Substance: HALOPERIDOL
     Route: 065
  283. HALOPERIDOL [Suspect]
     Active Substance: HALOPERIDOL
  284. HALOPERIDOL [Suspect]
     Active Substance: HALOPERIDOL
  285. HALOPERIDOL [Suspect]
     Active Substance: HALOPERIDOL
     Route: 065
  286. HALOPERIDOL [Suspect]
     Active Substance: HALOPERIDOL
     Route: 065
  287. HALOPERIDOL [Suspect]
     Active Substance: HALOPERIDOL
     Dosage: 10 MG, BID(2X/DAY)
  288. HALOPERIDOL [Suspect]
     Active Substance: HALOPERIDOL
     Dosage: 10 MG, BID(2X/DAY)
  289. HALOPERIDOL [Suspect]
     Active Substance: HALOPERIDOL
     Dosage: 10 MG, BID(2X/DAY)
     Route: 065
  290. HALOPERIDOL [Suspect]
     Active Substance: HALOPERIDOL
     Dosage: 10 MG, BID(2X/DAY)
     Route: 065
  291. HALOPERIDOL [Suspect]
     Active Substance: HALOPERIDOL
     Dosage: 20 MILLIGRAM, ONCE A DAY (10 MILLIGRAM, BID)
  292. HALOPERIDOL [Suspect]
     Active Substance: HALOPERIDOL
     Dosage: 20 MILLIGRAM, ONCE A DAY (10 MILLIGRAM, BID)
  293. HALOPERIDOL [Suspect]
     Active Substance: HALOPERIDOL
     Dosage: 20 MILLIGRAM, ONCE A DAY (10 MILLIGRAM, BID)
     Route: 065
  294. HALOPERIDOL [Suspect]
     Active Substance: HALOPERIDOL
     Dosage: 20 MILLIGRAM, ONCE A DAY (10 MILLIGRAM, BID)
     Route: 065
  295. HALOPERIDOL [Suspect]
     Active Substance: HALOPERIDOL
     Dosage: 5 MILLIGRAM, TWO TIMES A DAY (5 MG, BID)
  296. HALOPERIDOL [Suspect]
     Active Substance: HALOPERIDOL
     Dosage: 5 MILLIGRAM, TWO TIMES A DAY (5 MG, BID)
  297. HALOPERIDOL [Suspect]
     Active Substance: HALOPERIDOL
     Dosage: 5 MILLIGRAM, TWO TIMES A DAY (5 MG, BID)
     Route: 065
  298. HALOPERIDOL [Suspect]
     Active Substance: HALOPERIDOL
     Dosage: 5 MILLIGRAM, TWO TIMES A DAY (5 MG, BID)
     Route: 065
  299. HALOPERIDOL [Suspect]
     Active Substance: HALOPERIDOL
     Dosage: 20 MG, QD
  300. HALOPERIDOL [Suspect]
     Active Substance: HALOPERIDOL
     Dosage: 20 MG, QD
  301. HALOPERIDOL [Suspect]
     Active Substance: HALOPERIDOL
     Dosage: 20 MG, QD
     Route: 065
  302. HALOPERIDOL [Suspect]
     Active Substance: HALOPERIDOL
     Dosage: 20 MG, QD
     Route: 065
  303. HALOPERIDOL [Suspect]
     Active Substance: HALOPERIDOL
     Dosage: 10 MG, QD
  304. HALOPERIDOL [Suspect]
     Active Substance: HALOPERIDOL
     Dosage: 10 MG, QD
  305. HALOPERIDOL [Suspect]
     Active Substance: HALOPERIDOL
     Dosage: 10 MG, QD
     Route: 065
  306. HALOPERIDOL [Suspect]
     Active Substance: HALOPERIDOL
     Dosage: 10 MG, QD
     Route: 065
  307. HALOPERIDOL [Suspect]
     Active Substance: HALOPERIDOL
  308. HALOPERIDOL [Suspect]
     Active Substance: HALOPERIDOL
  309. HALOPERIDOL [Suspect]
     Active Substance: HALOPERIDOL
     Route: 065
  310. HALOPERIDOL [Suspect]
     Active Substance: HALOPERIDOL
     Route: 065
  311. HALOPERIDOL [Suspect]
     Active Substance: HALOPERIDOL
     Dosage: 5 MILLIGRAM, ONCE A DAY
  312. HALOPERIDOL [Suspect]
     Active Substance: HALOPERIDOL
     Dosage: 5 MILLIGRAM, ONCE A DAY
  313. HALOPERIDOL [Suspect]
     Active Substance: HALOPERIDOL
     Dosage: 5 MILLIGRAM, ONCE A DAY
     Route: 065
  314. HALOPERIDOL [Suspect]
     Active Substance: HALOPERIDOL
     Dosage: 5 MILLIGRAM, ONCE A DAY
     Route: 065
  315. HALOPERIDOL [Suspect]
     Active Substance: HALOPERIDOL
     Dosage: 20 MG, QD
  316. HALOPERIDOL [Suspect]
     Active Substance: HALOPERIDOL
     Dosage: 20 MG, QD
  317. HALOPERIDOL [Suspect]
     Active Substance: HALOPERIDOL
     Dosage: 20 MG, QD
     Route: 065
  318. HALOPERIDOL [Suspect]
     Active Substance: HALOPERIDOL
     Dosage: 20 MG, QD
     Route: 065
  319. HALOPERIDOL [Suspect]
     Active Substance: HALOPERIDOL
     Dosage: 5 MG, BID
  320. HALOPERIDOL [Suspect]
     Active Substance: HALOPERIDOL
     Dosage: 5 MG, BID
  321. HALOPERIDOL [Suspect]
     Active Substance: HALOPERIDOL
     Dosage: 5 MG, BID
     Route: 065
  322. HALOPERIDOL [Suspect]
     Active Substance: HALOPERIDOL
     Dosage: 5 MG, BID
     Route: 065
  323. HALOPERIDOL [Suspect]
     Active Substance: HALOPERIDOL
     Dosage: 10 MG, QD
  324. HALOPERIDOL [Suspect]
     Active Substance: HALOPERIDOL
     Dosage: 10 MG, QD
  325. HALOPERIDOL [Suspect]
     Active Substance: HALOPERIDOL
     Dosage: 10 MG, QD
     Route: 065
  326. HALOPERIDOL [Suspect]
     Active Substance: HALOPERIDOL
     Dosage: 10 MG, QD
     Route: 065
  327. HALOPERIDOL [Suspect]
     Active Substance: HALOPERIDOL
     Dosage: 10 MG, QD
  328. HALOPERIDOL [Suspect]
     Active Substance: HALOPERIDOL
     Dosage: 10 MG, QD
  329. HALOPERIDOL [Suspect]
     Active Substance: HALOPERIDOL
     Dosage: 10 MG, QD
     Route: 065
  330. HALOPERIDOL [Suspect]
     Active Substance: HALOPERIDOL
     Dosage: 10 MG, QD
     Route: 065
  331. ARIPIPRAZOLE [Suspect]
     Active Substance: ARIPIPRAZOLE
     Indication: Schizophrenia
  332. ARIPIPRAZOLE [Suspect]
     Active Substance: ARIPIPRAZOLE
  333. ARIPIPRAZOLE [Suspect]
     Active Substance: ARIPIPRAZOLE
     Route: 065
  334. ARIPIPRAZOLE [Suspect]
     Active Substance: ARIPIPRAZOLE
     Route: 065
  335. ARIPIPRAZOLE [Suspect]
     Active Substance: ARIPIPRAZOLE
  336. ARIPIPRAZOLE [Suspect]
     Active Substance: ARIPIPRAZOLE
     Route: 065
  337. ARIPIPRAZOLE [Suspect]
     Active Substance: ARIPIPRAZOLE
  338. ARIPIPRAZOLE [Suspect]
     Active Substance: ARIPIPRAZOLE
     Route: 065
  339. ARIPIPRAZOLE [Suspect]
     Active Substance: ARIPIPRAZOLE
  340. ARIPIPRAZOLE [Suspect]
     Active Substance: ARIPIPRAZOLE
  341. ARIPIPRAZOLE [Suspect]
     Active Substance: ARIPIPRAZOLE
     Route: 065
  342. ARIPIPRAZOLE [Suspect]
     Active Substance: ARIPIPRAZOLE
     Route: 065
  343. ARIPIPRAZOLE [Suspect]
     Active Substance: ARIPIPRAZOLE
  344. ARIPIPRAZOLE [Suspect]
     Active Substance: ARIPIPRAZOLE
  345. ARIPIPRAZOLE [Suspect]
     Active Substance: ARIPIPRAZOLE
     Route: 065
  346. ARIPIPRAZOLE [Suspect]
     Active Substance: ARIPIPRAZOLE
     Route: 065
  347. ARIPIPRAZOLE [Suspect]
     Active Substance: ARIPIPRAZOLE
     Route: 065
  348. ARIPIPRAZOLE [Suspect]
     Active Substance: ARIPIPRAZOLE
     Route: 065
  349. ARIPIPRAZOLE [Suspect]
     Active Substance: ARIPIPRAZOLE
  350. ARIPIPRAZOLE [Suspect]
     Active Substance: ARIPIPRAZOLE
  351. ARIPIPRAZOLE [Suspect]
     Active Substance: ARIPIPRAZOLE
  352. ARIPIPRAZOLE [Suspect]
     Active Substance: ARIPIPRAZOLE
  353. ARIPIPRAZOLE [Suspect]
     Active Substance: ARIPIPRAZOLE
     Route: 065
  354. ARIPIPRAZOLE [Suspect]
     Active Substance: ARIPIPRAZOLE
     Route: 065
  355. ARIPIPRAZOLE [Suspect]
     Active Substance: ARIPIPRAZOLE
  356. ARIPIPRAZOLE [Suspect]
     Active Substance: ARIPIPRAZOLE
  357. ARIPIPRAZOLE [Suspect]
     Active Substance: ARIPIPRAZOLE
     Route: 065
  358. ARIPIPRAZOLE [Suspect]
     Active Substance: ARIPIPRAZOLE
     Route: 065
  359. LORAZEPAM [Suspect]
     Active Substance: LORAZEPAM
     Indication: Schizophrenia
  360. LORAZEPAM [Suspect]
     Active Substance: LORAZEPAM
  361. LORAZEPAM [Suspect]
     Active Substance: LORAZEPAM
     Route: 048
  362. LORAZEPAM [Suspect]
     Active Substance: LORAZEPAM
     Route: 048
  363. LORAZEPAM [Suspect]
     Active Substance: LORAZEPAM
  364. LORAZEPAM [Suspect]
     Active Substance: LORAZEPAM
  365. LORAZEPAM [Suspect]
     Active Substance: LORAZEPAM
     Route: 048
  366. LORAZEPAM [Suspect]
     Active Substance: LORAZEPAM
     Route: 048
  367. LORAZEPAM [Suspect]
     Active Substance: LORAZEPAM
  368. LORAZEPAM [Suspect]
     Active Substance: LORAZEPAM
  369. LORAZEPAM [Suspect]
     Active Substance: LORAZEPAM
     Route: 048
  370. LORAZEPAM [Suspect]
     Active Substance: LORAZEPAM
     Route: 048
  371. LORAZEPAM [Suspect]
     Active Substance: LORAZEPAM
  372. LORAZEPAM [Suspect]
     Active Substance: LORAZEPAM
  373. LORAZEPAM [Suspect]
     Active Substance: LORAZEPAM
     Route: 048
  374. LORAZEPAM [Suspect]
     Active Substance: LORAZEPAM
     Route: 048
  375. LORAZEPAM [Suspect]
     Active Substance: LORAZEPAM
  376. LORAZEPAM [Suspect]
     Active Substance: LORAZEPAM
     Route: 048
  377. LORAZEPAM [Suspect]
     Active Substance: LORAZEPAM
  378. LORAZEPAM [Suspect]
     Active Substance: LORAZEPAM
     Route: 048
  379. LORAZEPAM [Suspect]
     Active Substance: LORAZEPAM
  380. LORAZEPAM [Suspect]
     Active Substance: LORAZEPAM
  381. LORAZEPAM [Suspect]
     Active Substance: LORAZEPAM
     Route: 048
  382. LORAZEPAM [Suspect]
     Active Substance: LORAZEPAM
     Route: 048
  383. LORAZEPAM [Suspect]
     Active Substance: LORAZEPAM
  384. LORAZEPAM [Suspect]
     Active Substance: LORAZEPAM
  385. LORAZEPAM [Suspect]
     Active Substance: LORAZEPAM
     Route: 048
  386. LORAZEPAM [Suspect]
     Active Substance: LORAZEPAM
     Route: 048
  387. LORAZEPAM [Suspect]
     Active Substance: LORAZEPAM
  388. LORAZEPAM [Suspect]
     Active Substance: LORAZEPAM
  389. LORAZEPAM [Suspect]
     Active Substance: LORAZEPAM
     Route: 048
  390. LORAZEPAM [Suspect]
     Active Substance: LORAZEPAM
     Route: 048
  391. LORAZEPAM [Suspect]
     Active Substance: LORAZEPAM
  392. LORAZEPAM [Suspect]
     Active Substance: LORAZEPAM
  393. LORAZEPAM [Suspect]
     Active Substance: LORAZEPAM
     Route: 048
  394. LORAZEPAM [Suspect]
     Active Substance: LORAZEPAM
     Route: 048
  395. LORAZEPAM [Suspect]
     Active Substance: LORAZEPAM
  396. LORAZEPAM [Suspect]
     Active Substance: LORAZEPAM
  397. LORAZEPAM [Suspect]
     Active Substance: LORAZEPAM
     Route: 065
  398. LORAZEPAM [Suspect]
     Active Substance: LORAZEPAM
     Route: 065
  399. LORAZEPAM [Suspect]
     Active Substance: LORAZEPAM
  400. LORAZEPAM [Suspect]
     Active Substance: LORAZEPAM
  401. LORAZEPAM [Suspect]
     Active Substance: LORAZEPAM
     Route: 048
  402. LORAZEPAM [Suspect]
     Active Substance: LORAZEPAM
     Route: 048
  403. PACLITAXEL [Suspect]
     Active Substance: PACLITAXEL
     Indication: Breast cancer metastatic
     Dosage: 150 MILLIGRAM, QW
     Route: 042
     Dates: start: 20151111, end: 20151222
  404. PACLITAXEL [Suspect]
     Active Substance: PACLITAXEL
     Dosage: 150 MILLIGRAM, QW
     Dates: start: 20151111, end: 20151222
  405. PACLITAXEL [Suspect]
     Active Substance: PACLITAXEL
     Dosage: 150 MILLIGRAM, QW
     Dates: start: 20151111, end: 20151222
  406. PACLITAXEL [Suspect]
     Active Substance: PACLITAXEL
     Dosage: 150 MILLIGRAM, QW
     Route: 042
     Dates: start: 20151111, end: 20151222
  407. PACLITAXEL [Suspect]
     Active Substance: PACLITAXEL
     Dosage: 120 MG, WEEKLY
     Route: 042
     Dates: start: 20151111
  408. PACLITAXEL [Suspect]
     Active Substance: PACLITAXEL
     Dosage: 120 MG, WEEKLY
     Dates: start: 20151111
  409. PACLITAXEL [Suspect]
     Active Substance: PACLITAXEL
     Dosage: 120 MG, WEEKLY
     Dates: start: 20151111
  410. PACLITAXEL [Suspect]
     Active Substance: PACLITAXEL
     Dosage: 120 MG, WEEKLY
     Route: 042
     Dates: start: 20151111
  411. PACLITAXEL [Suspect]
     Active Substance: PACLITAXEL
     Dosage: 120 MILLIGRAM, QW
     Route: 042
     Dates: start: 20151223, end: 20151223
  412. PACLITAXEL [Suspect]
     Active Substance: PACLITAXEL
     Dosage: 120 MILLIGRAM, QW
     Route: 042
     Dates: start: 20151223, end: 20151223
  413. PACLITAXEL [Suspect]
     Active Substance: PACLITAXEL
     Dosage: 120 MILLIGRAM, QW
     Dates: start: 20151223, end: 20151223
  414. PACLITAXEL [Suspect]
     Active Substance: PACLITAXEL
     Dosage: 120 MILLIGRAM, QW
     Dates: start: 20151223, end: 20151223
  415. DOCETAXEL [Suspect]
     Active Substance: DOCETAXEL
     Indication: Breast cancer metastatic
     Dosage: 110 MILLIGRAM, Q3W (CUMULATIVE DOSE: 324.98)
     Dates: start: 20150930, end: 20151021
  416. DOCETAXEL [Suspect]
     Active Substance: DOCETAXEL
     Dosage: 110 MILLIGRAM, Q3W (CUMULATIVE DOSE: 324.98)
     Dates: start: 20150930, end: 20151021
  417. DOCETAXEL [Suspect]
     Active Substance: DOCETAXEL
     Dosage: 110 MILLIGRAM, Q3W (CUMULATIVE DOSE: 324.98)
     Route: 042
     Dates: start: 20150930, end: 20151021
  418. DOCETAXEL [Suspect]
     Active Substance: DOCETAXEL
     Dosage: 110 MILLIGRAM, Q3W (CUMULATIVE DOSE: 324.98)
     Route: 042
     Dates: start: 20150930, end: 20151021
  419. DOCETAXEL [Suspect]
     Active Substance: DOCETAXEL
  420. DOCETAXEL [Suspect]
     Active Substance: DOCETAXEL
  421. DOCETAXEL [Suspect]
     Active Substance: DOCETAXEL
     Route: 065
  422. DOCETAXEL [Suspect]
     Active Substance: DOCETAXEL
     Route: 065
  423. OLANZAPINE [Suspect]
     Active Substance: OLANZAPINE
     Indication: Schizophrenia
  424. OLANZAPINE [Suspect]
     Active Substance: OLANZAPINE
  425. OLANZAPINE [Suspect]
     Active Substance: OLANZAPINE
     Route: 065
  426. OLANZAPINE [Suspect]
     Active Substance: OLANZAPINE
     Route: 065
  427. OLANZAPINE [Suspect]
     Active Substance: OLANZAPINE
     Route: 065
  428. OLANZAPINE [Suspect]
     Active Substance: OLANZAPINE
  429. OLANZAPINE [Suspect]
     Active Substance: OLANZAPINE
  430. OLANZAPINE [Suspect]
     Active Substance: OLANZAPINE
     Route: 065
  431. OLANZAPINE [Suspect]
     Active Substance: OLANZAPINE
  432. OLANZAPINE [Suspect]
     Active Substance: OLANZAPINE
  433. OLANZAPINE [Suspect]
     Active Substance: OLANZAPINE
     Route: 065
  434. OLANZAPINE [Suspect]
     Active Substance: OLANZAPINE
     Route: 065
  435. OLANZAPINE [Suspect]
     Active Substance: OLANZAPINE
  436. OLANZAPINE [Suspect]
     Active Substance: OLANZAPINE
  437. OLANZAPINE [Suspect]
     Active Substance: OLANZAPINE
     Route: 065
  438. OLANZAPINE [Suspect]
     Active Substance: OLANZAPINE
     Route: 065
  439. OLANZAPINE [Suspect]
     Active Substance: OLANZAPINE
     Route: 065
  440. OLANZAPINE [Suspect]
     Active Substance: OLANZAPINE
     Route: 065
  441. OLANZAPINE [Suspect]
     Active Substance: OLANZAPINE
  442. OLANZAPINE [Suspect]
     Active Substance: OLANZAPINE
  443. OLANZAPINE [Suspect]
     Active Substance: OLANZAPINE
  444. OLANZAPINE [Suspect]
     Active Substance: OLANZAPINE
  445. OLANZAPINE [Suspect]
     Active Substance: OLANZAPINE
     Route: 048
  446. OLANZAPINE [Suspect]
     Active Substance: OLANZAPINE
     Route: 048
  447. OLANZAPINE [Suspect]
     Active Substance: OLANZAPINE
     Route: 065
  448. OLANZAPINE [Suspect]
     Active Substance: OLANZAPINE
     Route: 065
  449. OLANZAPINE [Suspect]
     Active Substance: OLANZAPINE
  450. OLANZAPINE [Suspect]
     Active Substance: OLANZAPINE
  451. OLANZAPINE [Suspect]
     Active Substance: OLANZAPINE
     Route: 065
  452. OLANZAPINE [Suspect]
     Active Substance: OLANZAPINE
  453. OLANZAPINE [Suspect]
     Active Substance: OLANZAPINE
  454. OLANZAPINE [Suspect]
     Active Substance: OLANZAPINE
     Route: 065
  455. OLANZAPINE [Suspect]
     Active Substance: OLANZAPINE
     Route: 065
  456. OLANZAPINE [Suspect]
     Active Substance: OLANZAPINE
  457. OLANZAPINE [Suspect]
     Active Substance: OLANZAPINE
  458. OLANZAPINE [Suspect]
     Active Substance: OLANZAPINE
     Route: 065
  459. OLANZAPINE [Suspect]
     Active Substance: OLANZAPINE
     Route: 065
  460. OLANZAPINE [Suspect]
     Active Substance: OLANZAPINE
  461. OLANZAPINE [Suspect]
     Active Substance: OLANZAPINE
  462. OLANZAPINE [Suspect]
     Active Substance: OLANZAPINE
     Route: 065
  463. OLANZAPINE [Suspect]
     Active Substance: OLANZAPINE
  464. OLANZAPINE [Suspect]
     Active Substance: OLANZAPINE
  465. OLANZAPINE [Suspect]
     Active Substance: OLANZAPINE
     Route: 065
  466. OLANZAPINE [Suspect]
     Active Substance: OLANZAPINE
     Route: 065
  467. OLANZAPINE [Suspect]
     Active Substance: OLANZAPINE
  468. OLANZAPINE [Suspect]
     Active Substance: OLANZAPINE
  469. OLANZAPINE [Suspect]
     Active Substance: OLANZAPINE
     Route: 065
  470. OLANZAPINE [Suspect]
     Active Substance: OLANZAPINE
     Route: 065
  471. RISPERIDONE [Suspect]
     Active Substance: RISPERIDONE
     Indication: Schizophrenia
     Dosage: 1 MILLIGRAM, QD
  472. RISPERIDONE [Suspect]
     Active Substance: RISPERIDONE
     Dosage: 1 MILLIGRAM, QD
  473. RISPERIDONE [Suspect]
     Active Substance: RISPERIDONE
     Dosage: 1 MILLIGRAM, QD
     Route: 065
  474. RISPERIDONE [Suspect]
     Active Substance: RISPERIDONE
     Dosage: 1 MILLIGRAM, QD
     Route: 065
  475. RISPERIDONE [Suspect]
     Active Substance: RISPERIDONE
     Dosage: 4 MILLIGRAM, QD (2 MG, 2X/DAY)
  476. RISPERIDONE [Suspect]
     Active Substance: RISPERIDONE
     Dosage: 4 MILLIGRAM, QD (2 MG, 2X/DAY)
  477. RISPERIDONE [Suspect]
     Active Substance: RISPERIDONE
     Dosage: 4 MILLIGRAM, QD (2 MG, 2X/DAY)
     Route: 065
  478. RISPERIDONE [Suspect]
     Active Substance: RISPERIDONE
     Dosage: 4 MILLIGRAM, QD (2 MG, 2X/DAY)
     Route: 065
  479. RISPERIDONE [Suspect]
     Active Substance: RISPERIDONE
     Dosage: 4 MILLIGRAM, QD (2 MILLIGRAM, BID )
     Route: 065
  480. RISPERIDONE [Suspect]
     Active Substance: RISPERIDONE
     Dosage: 4 MILLIGRAM, QD (2 MILLIGRAM, BID )
  481. RISPERIDONE [Suspect]
     Active Substance: RISPERIDONE
     Dosage: 4 MILLIGRAM, QD (2 MILLIGRAM, BID )
  482. RISPERIDONE [Suspect]
     Active Substance: RISPERIDONE
     Dosage: 4 MILLIGRAM, QD (2 MILLIGRAM, BID )
     Route: 065
  483. RISPERIDONE [Suspect]
     Active Substance: RISPERIDONE
     Dosage: 6 MILLIGRAM, QD
  484. RISPERIDONE [Suspect]
     Active Substance: RISPERIDONE
     Dosage: 6 MILLIGRAM, QD
  485. RISPERIDONE [Suspect]
     Active Substance: RISPERIDONE
     Dosage: 6 MILLIGRAM, QD
     Route: 065
  486. RISPERIDONE [Suspect]
     Active Substance: RISPERIDONE
     Dosage: 6 MILLIGRAM, QD
     Route: 065
  487. RISPERIDONE [Suspect]
     Active Substance: RISPERIDONE
     Dosage: 6 MILLIGRAM, QD (3 MILLIGRAM, BID)
  488. RISPERIDONE [Suspect]
     Active Substance: RISPERIDONE
     Dosage: 6 MILLIGRAM, QD (3 MILLIGRAM, BID)
  489. RISPERIDONE [Suspect]
     Active Substance: RISPERIDONE
     Dosage: 6 MILLIGRAM, QD (3 MILLIGRAM, BID)
     Route: 065
  490. RISPERIDONE [Suspect]
     Active Substance: RISPERIDONE
     Dosage: 6 MILLIGRAM, QD (3 MILLIGRAM, BID)
     Route: 065
  491. RISPERIDONE [Suspect]
     Active Substance: RISPERIDONE
     Dosage: 4 MILLIGRAM, QD
  492. RISPERIDONE [Suspect]
     Active Substance: RISPERIDONE
     Dosage: 4 MILLIGRAM, QD
     Route: 065
  493. RISPERIDONE [Suspect]
     Active Substance: RISPERIDONE
     Dosage: 4 MILLIGRAM, QD
  494. RISPERIDONE [Suspect]
     Active Substance: RISPERIDONE
     Dosage: 4 MILLIGRAM, QD
     Route: 065
  495. RISPERIDONE [Suspect]
     Active Substance: RISPERIDONE
     Dosage: 4 MILLIGRAM, QD
     Route: 065
  496. RISPERIDONE [Suspect]
     Active Substance: RISPERIDONE
     Dosage: 4 MILLIGRAM, QD
  497. RISPERIDONE [Suspect]
     Active Substance: RISPERIDONE
     Dosage: 4 MILLIGRAM, QD
  498. RISPERIDONE [Suspect]
     Active Substance: RISPERIDONE
     Dosage: 4 MILLIGRAM, QD
     Route: 065
  499. RISPERIDONE [Suspect]
     Active Substance: RISPERIDONE
     Dosage: 1 GRAM, QD
  500. RISPERIDONE [Suspect]
     Active Substance: RISPERIDONE
     Dosage: 1 GRAM, QD
  501. RISPERIDONE [Suspect]
     Active Substance: RISPERIDONE
     Dosage: 1 GRAM, QD
     Route: 065
  502. RISPERIDONE [Suspect]
     Active Substance: RISPERIDONE
     Dosage: 1 GRAM, QD
     Route: 065
  503. RISPERIDONE [Suspect]
     Active Substance: RISPERIDONE
     Dosage: 6 MILLIGRAM, QD (3 MILLIGRAM, BID)
  504. RISPERIDONE [Suspect]
     Active Substance: RISPERIDONE
     Dosage: 6 MILLIGRAM, QD (3 MILLIGRAM, BID)
  505. RISPERIDONE [Suspect]
     Active Substance: RISPERIDONE
     Dosage: 6 MILLIGRAM, QD (3 MILLIGRAM, BID)
     Route: 065
  506. RISPERIDONE [Suspect]
     Active Substance: RISPERIDONE
     Dosage: 6 MILLIGRAM, QD (3 MILLIGRAM, BID)
     Route: 065
  507. RISPERIDONE [Suspect]
     Active Substance: RISPERIDONE
     Dosage: 4 MILLIGRAM, QD
  508. RISPERIDONE [Suspect]
     Active Substance: RISPERIDONE
     Dosage: 4 MILLIGRAM, QD
     Route: 065
  509. RISPERIDONE [Suspect]
     Active Substance: RISPERIDONE
     Dosage: 4 MILLIGRAM, QD
  510. RISPERIDONE [Suspect]
     Active Substance: RISPERIDONE
     Dosage: 4 MILLIGRAM, QD
     Route: 065
  511. RISPERIDONE [Suspect]
     Active Substance: RISPERIDONE
     Dosage: 6 MILLIGRAM, QD (3 MG, 2X/DAY)
  512. RISPERIDONE [Suspect]
     Active Substance: RISPERIDONE
     Dosage: 6 MILLIGRAM, QD (3 MG, 2X/DAY)
  513. RISPERIDONE [Suspect]
     Active Substance: RISPERIDONE
     Dosage: 6 MILLIGRAM, QD (3 MG, 2X/DAY)
     Route: 065
  514. RISPERIDONE [Suspect]
     Active Substance: RISPERIDONE
     Dosage: 6 MILLIGRAM, QD (3 MG, 2X/DAY)
     Route: 065
  515. RISPERIDONE [Suspect]
     Active Substance: RISPERIDONE
     Dosage: 1 GRAM, QD
  516. RISPERIDONE [Suspect]
     Active Substance: RISPERIDONE
     Dosage: 1 GRAM, QD
  517. RISPERIDONE [Suspect]
     Active Substance: RISPERIDONE
     Dosage: 1 GRAM, QD
     Route: 065
  518. RISPERIDONE [Suspect]
     Active Substance: RISPERIDONE
     Dosage: 1 GRAM, QD
     Route: 065
  519. RISPERIDONE [Suspect]
     Active Substance: RISPERIDONE
     Dosage: 1 MILLIGRAM, QD
  520. RISPERIDONE [Suspect]
     Active Substance: RISPERIDONE
     Dosage: 1 MILLIGRAM, QD
  521. RISPERIDONE [Suspect]
     Active Substance: RISPERIDONE
     Dosage: 1 MILLIGRAM, QD
     Route: 065
  522. RISPERIDONE [Suspect]
     Active Substance: RISPERIDONE
     Dosage: 1 MILLIGRAM, QD
     Route: 065
  523. RISPERIDONE [Suspect]
     Active Substance: RISPERIDONE
     Dosage: 6 MILLIGRAM, QD
  524. RISPERIDONE [Suspect]
     Active Substance: RISPERIDONE
     Dosage: 6 MILLIGRAM, QD
  525. RISPERIDONE [Suspect]
     Active Substance: RISPERIDONE
     Dosage: 6 MILLIGRAM, QD
     Route: 065
  526. RISPERIDONE [Suspect]
     Active Substance: RISPERIDONE
     Dosage: 6 MILLIGRAM, QD
     Route: 065
  527. RISPERIDONE [Suspect]
     Active Substance: RISPERIDONE
     Dosage: 1 MG, DAILY
  528. RISPERIDONE [Suspect]
     Active Substance: RISPERIDONE
     Dosage: 1 MG, DAILY
  529. RISPERIDONE [Suspect]
     Active Substance: RISPERIDONE
     Dosage: 1 MG, DAILY
     Route: 065
  530. RISPERIDONE [Suspect]
     Active Substance: RISPERIDONE
     Dosage: 1 MG, DAILY
     Route: 065
  531. RISPERIDONE [Suspect]
     Active Substance: RISPERIDONE
     Dosage: 2 MG, BID
  532. RISPERIDONE [Suspect]
     Active Substance: RISPERIDONE
     Dosage: 2 MG, BID
  533. RISPERIDONE [Suspect]
     Active Substance: RISPERIDONE
     Dosage: 2 MG, BID
     Route: 065
  534. RISPERIDONE [Suspect]
     Active Substance: RISPERIDONE
     Dosage: 2 MG, BID
     Route: 065
  535. RISPERIDONE [Suspect]
     Active Substance: RISPERIDONE
     Dosage: 6 MG, DAILY
  536. RISPERIDONE [Suspect]
     Active Substance: RISPERIDONE
     Dosage: 6 MG, DAILY
  537. RISPERIDONE [Suspect]
     Active Substance: RISPERIDONE
     Dosage: 6 MG, DAILY
     Route: 048
  538. RISPERIDONE [Suspect]
     Active Substance: RISPERIDONE
     Dosage: 6 MG, DAILY
     Route: 048
  539. RISPERIDONE [Suspect]
     Active Substance: RISPERIDONE
     Dosage: 4 MG, DAILY
     Route: 048
  540. RISPERIDONE [Suspect]
     Active Substance: RISPERIDONE
     Dosage: 4 MG, DAILY
  541. RISPERIDONE [Suspect]
     Active Substance: RISPERIDONE
     Dosage: 4 MG, DAILY
  542. RISPERIDONE [Suspect]
     Active Substance: RISPERIDONE
     Dosage: 4 MG, DAILY
     Route: 048
  543. RISPERIDONE [Suspect]
     Active Substance: RISPERIDONE
     Dosage: 3 MG, DAILY
  544. RISPERIDONE [Suspect]
     Active Substance: RISPERIDONE
     Dosage: 3 MG, DAILY
  545. RISPERIDONE [Suspect]
     Active Substance: RISPERIDONE
     Dosage: 3 MG, DAILY
     Route: 048
  546. RISPERIDONE [Suspect]
     Active Substance: RISPERIDONE
     Dosage: 3 MG, DAILY
     Route: 048
  547. RISPERIDONE [Suspect]
     Active Substance: RISPERIDONE
     Dosage: 2 MG, BID
  548. RISPERIDONE [Suspect]
     Active Substance: RISPERIDONE
     Dosage: 2 MG, BID
  549. RISPERIDONE [Suspect]
     Active Substance: RISPERIDONE
     Dosage: 2 MG, BID
     Route: 065
  550. RISPERIDONE [Suspect]
     Active Substance: RISPERIDONE
     Dosage: 2 MG, BID
     Route: 065
  551. RISPERIDONE [Suspect]
     Active Substance: RISPERIDONE
     Dosage: 6 MG, DAILY
  552. RISPERIDONE [Suspect]
     Active Substance: RISPERIDONE
     Dosage: 6 MG, DAILY
     Route: 065
  553. RISPERIDONE [Suspect]
     Active Substance: RISPERIDONE
     Dosage: 6 MG, DAILY
  554. RISPERIDONE [Suspect]
     Active Substance: RISPERIDONE
     Dosage: 6 MG, DAILY
     Route: 065
  555. RISPERIDONE [Suspect]
     Active Substance: RISPERIDONE
     Dosage: 4 MG, DAILY
     Route: 065
  556. RISPERIDONE [Suspect]
     Active Substance: RISPERIDONE
     Dosage: 4 MG, DAILY
  557. RISPERIDONE [Suspect]
     Active Substance: RISPERIDONE
     Dosage: 4 MG, DAILY
  558. RISPERIDONE [Suspect]
     Active Substance: RISPERIDONE
     Dosage: 4 MG, DAILY
     Route: 065
  559. RISPERIDONE [Suspect]
     Active Substance: RISPERIDONE
     Dosage: 3 MG, BID
  560. RISPERIDONE [Suspect]
     Active Substance: RISPERIDONE
     Dosage: 3 MG, BID
  561. RISPERIDONE [Suspect]
     Active Substance: RISPERIDONE
     Dosage: 3 MG, BID
     Route: 048
  562. RISPERIDONE [Suspect]
     Active Substance: RISPERIDONE
     Dosage: 3 MG, BID
     Route: 048
  563. RISPERIDONE [Suspect]
     Active Substance: RISPERIDONE
     Dosage: 1 MG, DAILY
  564. RISPERIDONE [Suspect]
     Active Substance: RISPERIDONE
     Dosage: 1 MG, DAILY
  565. RISPERIDONE [Suspect]
     Active Substance: RISPERIDONE
     Dosage: 1 MG, DAILY
     Route: 048
  566. RISPERIDONE [Suspect]
     Active Substance: RISPERIDONE
     Dosage: 1 MG, DAILY
     Route: 048
  567. RISPERIDONE [Suspect]
     Active Substance: RISPERIDONE
     Dosage: 1 G, DAILY
  568. RISPERIDONE [Suspect]
     Active Substance: RISPERIDONE
     Dosage: 1 G, DAILY
     Route: 065
  569. RISPERIDONE [Suspect]
     Active Substance: RISPERIDONE
     Dosage: 1 G, DAILY
  570. RISPERIDONE [Suspect]
     Active Substance: RISPERIDONE
     Dosage: 1 G, DAILY
     Route: 065
  571. RISPERIDONE [Suspect]
     Active Substance: RISPERIDONE
     Dosage: 2 MG, BID
  572. RISPERIDONE [Suspect]
     Active Substance: RISPERIDONE
     Dosage: 2 MG, BID
  573. RISPERIDONE [Suspect]
     Active Substance: RISPERIDONE
     Dosage: 2 MG, BID
     Route: 065
  574. RISPERIDONE [Suspect]
     Active Substance: RISPERIDONE
     Dosage: 2 MG, BID
     Route: 065
  575. RISPERIDONE [Suspect]
     Active Substance: RISPERIDONE
  576. RISPERIDONE [Suspect]
     Active Substance: RISPERIDONE
  577. RISPERIDONE [Suspect]
     Active Substance: RISPERIDONE
     Route: 065
  578. RISPERIDONE [Suspect]
     Active Substance: RISPERIDONE
     Route: 065
  579. RISPERIDONE [Suspect]
     Active Substance: RISPERIDONE
     Dosage: 1 G, DAILY
  580. RISPERIDONE [Suspect]
     Active Substance: RISPERIDONE
     Dosage: 1 G, DAILY
  581. RISPERIDONE [Suspect]
     Active Substance: RISPERIDONE
     Dosage: 1 G, DAILY
     Route: 065
  582. RISPERIDONE [Suspect]
     Active Substance: RISPERIDONE
     Dosage: 1 G, DAILY
     Route: 065
  583. RISPERIDONE [Suspect]
     Active Substance: RISPERIDONE
     Dosage: 3 MG, BID
  584. RISPERIDONE [Suspect]
     Active Substance: RISPERIDONE
     Dosage: 3 MG, BID
  585. RISPERIDONE [Suspect]
     Active Substance: RISPERIDONE
     Dosage: 3 MG, BID
     Route: 065
  586. RISPERIDONE [Suspect]
     Active Substance: RISPERIDONE
     Dosage: 3 MG, BID
     Route: 065
  587. RISPERDAL [Suspect]
     Active Substance: RISPERIDONE
     Indication: Schizophrenia
     Dosage: 1 G, QD
  588. RISPERDAL [Suspect]
     Active Substance: RISPERIDONE
     Dosage: 1 G, QD
  589. RISPERDAL [Suspect]
     Active Substance: RISPERIDONE
     Dosage: 1 G, QD
     Route: 065
  590. RISPERDAL [Suspect]
     Active Substance: RISPERIDONE
     Dosage: 1 G, QD
     Route: 065
  591. RISPERDAL [Suspect]
     Active Substance: RISPERIDONE
     Dosage: 4 MG, QD
  592. RISPERDAL [Suspect]
     Active Substance: RISPERIDONE
     Dosage: 4 MG, QD
  593. RISPERDAL [Suspect]
     Active Substance: RISPERIDONE
     Dosage: 4 MG, QD
     Route: 065
  594. RISPERDAL [Suspect]
     Active Substance: RISPERIDONE
     Dosage: 4 MG, QD
     Route: 065
  595. RISPERDAL [Suspect]
     Active Substance: RISPERIDONE
     Dosage: 3 MILLIGRAM, BID
  596. RISPERDAL [Suspect]
     Active Substance: RISPERIDONE
     Dosage: 3 MILLIGRAM, BID
  597. RISPERDAL [Suspect]
     Active Substance: RISPERIDONE
     Dosage: 3 MILLIGRAM, BID
     Route: 065
  598. RISPERDAL [Suspect]
     Active Substance: RISPERIDONE
     Dosage: 3 MILLIGRAM, BID
     Route: 065
  599. RISPERDAL [Suspect]
     Active Substance: RISPERIDONE
     Dosage: 1 MG, QD
  600. RISPERDAL [Suspect]
     Active Substance: RISPERIDONE
     Dosage: 1 MG, QD
  601. RISPERDAL [Suspect]
     Active Substance: RISPERIDONE
     Dosage: 1 MG, QD
     Route: 065
  602. RISPERDAL [Suspect]
     Active Substance: RISPERIDONE
     Dosage: 1 MG, QD
     Route: 065
  603. RISPERDAL [Suspect]
     Active Substance: RISPERIDONE
     Dosage: 4 MG, QD
  604. RISPERDAL [Suspect]
     Active Substance: RISPERIDONE
     Dosage: 4 MG, QD
  605. RISPERDAL [Suspect]
     Active Substance: RISPERIDONE
     Dosage: 4 MG, QD
     Route: 065
  606. RISPERDAL [Suspect]
     Active Substance: RISPERIDONE
     Dosage: 4 MG, QD
     Route: 065
  607. RISPERDAL [Suspect]
     Active Substance: RISPERIDONE
     Dosage: 6 MG, QD
  608. RISPERDAL [Suspect]
     Active Substance: RISPERIDONE
     Dosage: 6 MG, QD
  609. RISPERDAL [Suspect]
     Active Substance: RISPERIDONE
     Dosage: 6 MG, QD
     Route: 065
  610. RISPERDAL [Suspect]
     Active Substance: RISPERIDONE
     Dosage: 6 MG, QD
     Route: 065
  611. RISPERDAL [Suspect]
     Active Substance: RISPERIDONE
     Dosage: 3 MILLIGRAM, BID
  612. RISPERDAL [Suspect]
     Active Substance: RISPERIDONE
     Dosage: 3 MILLIGRAM, BID
  613. RISPERDAL [Suspect]
     Active Substance: RISPERIDONE
     Dosage: 3 MILLIGRAM, BID
     Route: 048
  614. RISPERDAL [Suspect]
     Active Substance: RISPERIDONE
     Dosage: 3 MILLIGRAM, BID
     Route: 048
  615. RISPERDAL [Suspect]
     Active Substance: RISPERIDONE
     Dosage: 4 MILLIGRAM, QD
  616. RISPERDAL [Suspect]
     Active Substance: RISPERIDONE
     Dosage: 4 MILLIGRAM, QD
  617. RISPERDAL [Suspect]
     Active Substance: RISPERIDONE
     Dosage: 4 MILLIGRAM, QD
     Route: 065
  618. RISPERDAL [Suspect]
     Active Substance: RISPERIDONE
     Dosage: 4 MILLIGRAM, QD
     Route: 065
  619. RISPERDAL [Suspect]
     Active Substance: RISPERIDONE
     Dosage: 6 MILLIGRAM, QD (3 MILLIGRAM, BID  )
  620. RISPERDAL [Suspect]
     Active Substance: RISPERIDONE
     Dosage: 6 MILLIGRAM, QD (3 MILLIGRAM, BID  )
  621. RISPERDAL [Suspect]
     Active Substance: RISPERIDONE
     Dosage: 6 MILLIGRAM, QD (3 MILLIGRAM, BID  )
     Route: 065
  622. RISPERDAL [Suspect]
     Active Substance: RISPERIDONE
     Dosage: 6 MILLIGRAM, QD (3 MILLIGRAM, BID  )
     Route: 065
  623. RISPERDAL [Suspect]
     Active Substance: RISPERIDONE
     Dosage: 6 MILLIGRAM, QD (3 MILLIGRAM, BID )
  624. RISPERDAL [Suspect]
     Active Substance: RISPERIDONE
     Dosage: 6 MILLIGRAM, QD (3 MILLIGRAM, BID )
  625. RISPERDAL [Suspect]
     Active Substance: RISPERIDONE
     Dosage: 6 MILLIGRAM, QD (3 MILLIGRAM, BID )
     Route: 065
  626. RISPERDAL [Suspect]
     Active Substance: RISPERIDONE
     Dosage: 6 MILLIGRAM, QD (3 MILLIGRAM, BID )
     Route: 065
  627. RISPERDAL [Suspect]
     Active Substance: RISPERIDONE
     Dosage: 6 MILLIGRAM, QD (3 MILLIGRAM, BID  )
  628. RISPERDAL [Suspect]
     Active Substance: RISPERIDONE
     Dosage: 6 MILLIGRAM, QD (3 MILLIGRAM, BID  )
  629. RISPERDAL [Suspect]
     Active Substance: RISPERIDONE
     Dosage: 6 MILLIGRAM, QD (3 MILLIGRAM, BID  )
     Route: 065
  630. RISPERDAL [Suspect]
     Active Substance: RISPERIDONE
     Dosage: 6 MILLIGRAM, QD (3 MILLIGRAM, BID  )
     Route: 065
  631. RISPERDAL [Suspect]
     Active Substance: RISPERIDONE
     Dosage: 4 MILLIGRAM, QD (2 MILLIGRAM, BID )
  632. RISPERDAL [Suspect]
     Active Substance: RISPERIDONE
     Dosage: 4 MILLIGRAM, QD (2 MILLIGRAM, BID )
  633. RISPERDAL [Suspect]
     Active Substance: RISPERIDONE
     Dosage: 4 MILLIGRAM, QD (2 MILLIGRAM, BID )
     Route: 065
  634. RISPERDAL [Suspect]
     Active Substance: RISPERIDONE
     Dosage: 4 MILLIGRAM, QD (2 MILLIGRAM, BID )
     Route: 065
  635. RISPERDAL [Suspect]
     Active Substance: RISPERIDONE
     Dosage: 6 MILLIGRAM, QD
  636. RISPERDAL [Suspect]
     Active Substance: RISPERIDONE
     Dosage: 6 MILLIGRAM, QD
  637. RISPERDAL [Suspect]
     Active Substance: RISPERIDONE
     Dosage: 6 MILLIGRAM, QD
     Route: 048
  638. RISPERDAL [Suspect]
     Active Substance: RISPERIDONE
     Dosage: 6 MILLIGRAM, QD
     Route: 048
  639. RISPERDAL [Suspect]
     Active Substance: RISPERIDONE
     Dosage: 6 MILLIGRAM, QD
  640. RISPERDAL [Suspect]
     Active Substance: RISPERIDONE
     Dosage: 6 MILLIGRAM, QD
  641. RISPERDAL [Suspect]
     Active Substance: RISPERIDONE
     Dosage: 6 MILLIGRAM, QD
     Route: 065
  642. RISPERDAL [Suspect]
     Active Substance: RISPERIDONE
     Dosage: 6 MILLIGRAM, QD
     Route: 065
  643. RISPERDAL [Suspect]
     Active Substance: RISPERIDONE
     Dosage: 6 MILLIGRAM, QD
  644. RISPERDAL [Suspect]
     Active Substance: RISPERIDONE
     Dosage: 6 MILLIGRAM, QD
  645. RISPERDAL [Suspect]
     Active Substance: RISPERIDONE
     Dosage: 6 MILLIGRAM, QD
     Route: 065
  646. RISPERDAL [Suspect]
     Active Substance: RISPERIDONE
     Dosage: 6 MILLIGRAM, QD
     Route: 065
  647. RISPERDAL [Suspect]
     Active Substance: RISPERIDONE
     Dosage: 6 MILLIGRAM, QD
  648. RISPERDAL [Suspect]
     Active Substance: RISPERIDONE
     Dosage: 6 MILLIGRAM, QD
  649. RISPERDAL [Suspect]
     Active Substance: RISPERIDONE
     Dosage: 6 MILLIGRAM, QD
     Route: 065
  650. RISPERDAL [Suspect]
     Active Substance: RISPERIDONE
     Dosage: 6 MILLIGRAM, QD
     Route: 065
  651. RISPERDAL [Suspect]
     Active Substance: RISPERIDONE
     Dosage: 6 MILLIGRAM, QD
  652. RISPERDAL [Suspect]
     Active Substance: RISPERIDONE
     Dosage: 6 MILLIGRAM, QD
  653. RISPERDAL [Suspect]
     Active Substance: RISPERIDONE
     Dosage: 6 MILLIGRAM, QD
     Route: 065
  654. RISPERDAL [Suspect]
     Active Substance: RISPERIDONE
     Dosage: 6 MILLIGRAM, QD
     Route: 065
  655. RISPERDAL [Suspect]
     Active Substance: RISPERIDONE
     Dosage: 1 MILLIGRAM, QD
  656. RISPERDAL [Suspect]
     Active Substance: RISPERIDONE
     Dosage: 1 MILLIGRAM, QD
  657. RISPERDAL [Suspect]
     Active Substance: RISPERIDONE
     Dosage: 1 MILLIGRAM, QD
     Route: 065
  658. RISPERDAL [Suspect]
     Active Substance: RISPERIDONE
     Dosage: 1 MILLIGRAM, QD
     Route: 065
  659. RISPERDAL [Suspect]
     Active Substance: RISPERIDONE
     Dosage: 1 MILLIGRAM, QD
  660. RISPERDAL [Suspect]
     Active Substance: RISPERIDONE
     Dosage: 1 MILLIGRAM, QD
  661. RISPERDAL [Suspect]
     Active Substance: RISPERIDONE
     Dosage: 1 MILLIGRAM, QD
     Route: 065
  662. RISPERDAL [Suspect]
     Active Substance: RISPERIDONE
     Dosage: 1 MILLIGRAM, QD
     Route: 065
  663. RISPERDAL [Suspect]
     Active Substance: RISPERIDONE
     Dosage: 1 MILLIGRAM, QD
  664. RISPERDAL [Suspect]
     Active Substance: RISPERIDONE
     Dosage: 1 MILLIGRAM, QD
  665. RISPERDAL [Suspect]
     Active Substance: RISPERIDONE
     Dosage: 1 MILLIGRAM, QD
     Route: 065
  666. RISPERDAL [Suspect]
     Active Substance: RISPERIDONE
     Dosage: 1 MILLIGRAM, QD
     Route: 065
  667. RISPERDAL [Suspect]
     Active Substance: RISPERIDONE
     Dosage: 1 MILLIGRAM, QD
  668. RISPERDAL [Suspect]
     Active Substance: RISPERIDONE
     Dosage: 1 MILLIGRAM, QD
  669. RISPERDAL [Suspect]
     Active Substance: RISPERIDONE
     Dosage: 1 MILLIGRAM, QD
     Route: 065
  670. RISPERDAL [Suspect]
     Active Substance: RISPERIDONE
     Dosage: 1 MILLIGRAM, QD
     Route: 065
  671. RISPERDAL [Suspect]
     Active Substance: RISPERIDONE
     Dosage: 1 MILLIGRAM, QD
  672. RISPERDAL [Suspect]
     Active Substance: RISPERIDONE
     Dosage: 1 MILLIGRAM, QD
  673. RISPERDAL [Suspect]
     Active Substance: RISPERIDONE
     Dosage: 1 MILLIGRAM, QD
     Route: 065
  674. RISPERDAL [Suspect]
     Active Substance: RISPERIDONE
     Dosage: 1 MILLIGRAM, QD
     Route: 065
  675. RISPERDAL [Suspect]
     Active Substance: RISPERIDONE
     Dosage: 1 MILLIGRAM, QD
  676. RISPERDAL [Suspect]
     Active Substance: RISPERIDONE
     Dosage: 1 MILLIGRAM, QD
  677. RISPERDAL [Suspect]
     Active Substance: RISPERIDONE
     Dosage: 1 MILLIGRAM, QD
     Route: 065
  678. RISPERDAL [Suspect]
     Active Substance: RISPERIDONE
     Dosage: 1 MILLIGRAM, QD
     Route: 065
  679. RISPERDAL [Suspect]
     Active Substance: RISPERIDONE
     Dosage: 4 MILLIGRAM, QD
  680. RISPERDAL [Suspect]
     Active Substance: RISPERIDONE
     Dosage: 4 MILLIGRAM, QD
  681. RISPERDAL [Suspect]
     Active Substance: RISPERIDONE
     Dosage: 4 MILLIGRAM, QD
     Route: 065
  682. RISPERDAL [Suspect]
     Active Substance: RISPERIDONE
     Dosage: 4 MILLIGRAM, QD
     Route: 065
  683. RISPERDAL [Suspect]
     Active Substance: RISPERIDONE
     Dosage: 4 MILLIGRAM, QD
  684. RISPERDAL [Suspect]
     Active Substance: RISPERIDONE
     Dosage: 4 MILLIGRAM, QD
  685. RISPERDAL [Suspect]
     Active Substance: RISPERIDONE
     Dosage: 4 MILLIGRAM, QD
     Route: 065
  686. RISPERDAL [Suspect]
     Active Substance: RISPERIDONE
     Dosage: 4 MILLIGRAM, QD
     Route: 065
  687. RISPERDAL [Suspect]
     Active Substance: RISPERIDONE
     Dosage: 4 MILLIGRAM, QD
  688. RISPERDAL [Suspect]
     Active Substance: RISPERIDONE
     Dosage: 4 MILLIGRAM, QD
  689. RISPERDAL [Suspect]
     Active Substance: RISPERIDONE
     Dosage: 4 MILLIGRAM, QD
     Route: 065
  690. RISPERDAL [Suspect]
     Active Substance: RISPERIDONE
     Dosage: 4 MILLIGRAM, QD
     Route: 065
  691. RISPERDAL [Suspect]
     Active Substance: RISPERIDONE
     Dosage: 4 MILLIGRAM, QD
  692. RISPERDAL [Suspect]
     Active Substance: RISPERIDONE
     Dosage: 4 MILLIGRAM, QD
  693. RISPERDAL [Suspect]
     Active Substance: RISPERIDONE
     Dosage: 4 MILLIGRAM, QD
     Route: 065
  694. RISPERDAL [Suspect]
     Active Substance: RISPERIDONE
     Dosage: 4 MILLIGRAM, QD
     Route: 065
  695. RISPERDAL [Suspect]
     Active Substance: RISPERIDONE
     Dosage: 4 MILLIGRAM, QD
  696. RISPERDAL [Suspect]
     Active Substance: RISPERIDONE
     Dosage: 4 MILLIGRAM, QD
  697. RISPERDAL [Suspect]
     Active Substance: RISPERIDONE
     Dosage: 4 MILLIGRAM, QD
     Route: 065
  698. RISPERDAL [Suspect]
     Active Substance: RISPERIDONE
     Dosage: 4 MILLIGRAM, QD
     Route: 065
  699. RISPERDAL [Suspect]
     Active Substance: RISPERIDONE
     Dosage: 4 MILLIGRAM, QD
  700. RISPERDAL [Suspect]
     Active Substance: RISPERIDONE
     Dosage: 4 MILLIGRAM, QD
  701. RISPERDAL [Suspect]
     Active Substance: RISPERIDONE
     Dosage: 4 MILLIGRAM, QD
     Route: 065
  702. RISPERDAL [Suspect]
     Active Substance: RISPERIDONE
     Dosage: 4 MILLIGRAM, QD
     Route: 065
  703. RISPERDAL [Suspect]
     Active Substance: RISPERIDONE
     Dosage: 4 MILLIGRAM, QD
  704. RISPERDAL [Suspect]
     Active Substance: RISPERIDONE
     Dosage: 4 MILLIGRAM, QD
  705. RISPERDAL [Suspect]
     Active Substance: RISPERIDONE
     Dosage: 4 MILLIGRAM, QD
     Route: 065
  706. RISPERDAL [Suspect]
     Active Substance: RISPERIDONE
     Dosage: 4 MILLIGRAM, QD
     Route: 065
  707. RISPERDAL [Suspect]
     Active Substance: RISPERIDONE
     Dosage: 3 MG, BID
  708. RISPERDAL [Suspect]
     Active Substance: RISPERIDONE
     Dosage: 3 MG, BID
  709. RISPERDAL [Suspect]
     Active Substance: RISPERIDONE
     Dosage: 3 MG, BID
     Route: 065
  710. RISPERDAL [Suspect]
     Active Substance: RISPERIDONE
     Dosage: 3 MG, BID
     Route: 065
  711. RISPERDAL [Suspect]
     Active Substance: RISPERIDONE
     Dosage: 1 G, DAILY
  712. RISPERDAL [Suspect]
     Active Substance: RISPERIDONE
     Dosage: 1 G, DAILY
  713. RISPERDAL [Suspect]
     Active Substance: RISPERIDONE
     Dosage: 1 G, DAILY
     Route: 065
  714. RISPERDAL [Suspect]
     Active Substance: RISPERIDONE
     Dosage: 1 G, DAILY
     Route: 065
  715. RISPERDAL [Suspect]
     Active Substance: RISPERIDONE
     Dosage: 4 MG, DAILY
  716. RISPERDAL [Suspect]
     Active Substance: RISPERIDONE
     Dosage: 4 MG, DAILY
  717. RISPERDAL [Suspect]
     Active Substance: RISPERIDONE
     Dosage: 4 MG, DAILY
     Route: 065
  718. RISPERDAL [Suspect]
     Active Substance: RISPERIDONE
     Dosage: 4 MG, DAILY
     Route: 065
  719. RISPERDAL [Suspect]
     Active Substance: RISPERIDONE
     Dosage: 1 MG, DAILY
  720. RISPERDAL [Suspect]
     Active Substance: RISPERIDONE
     Dosage: 1 MG, DAILY
  721. RISPERDAL [Suspect]
     Active Substance: RISPERIDONE
     Dosage: 1 MG, DAILY
     Route: 065
  722. RISPERDAL [Suspect]
     Active Substance: RISPERIDONE
     Dosage: 1 MG, DAILY
     Route: 065
  723. RISPERDAL [Suspect]
     Active Substance: RISPERIDONE
     Dosage: 6 MG, DAILY
  724. RISPERDAL [Suspect]
     Active Substance: RISPERIDONE
     Dosage: 6 MG, DAILY
  725. RISPERDAL [Suspect]
     Active Substance: RISPERIDONE
     Dosage: 6 MG, DAILY
     Route: 065
  726. RISPERDAL [Suspect]
     Active Substance: RISPERIDONE
     Dosage: 6 MG, DAILY
     Route: 065
  727. RISPERDAL [Suspect]
     Active Substance: RISPERIDONE
     Dosage: 4 MG, DAILY
  728. RISPERDAL [Suspect]
     Active Substance: RISPERIDONE
     Dosage: 4 MG, DAILY
  729. RISPERDAL [Suspect]
     Active Substance: RISPERIDONE
     Dosage: 4 MG, DAILY
     Route: 065
  730. RISPERDAL [Suspect]
     Active Substance: RISPERIDONE
     Dosage: 4 MG, DAILY
     Route: 065
  731. RISPERDAL [Suspect]
     Active Substance: RISPERIDONE
     Dosage: 3 MG, BID
  732. RISPERDAL [Suspect]
     Active Substance: RISPERIDONE
     Dosage: 3 MG, BID
  733. RISPERDAL [Suspect]
     Active Substance: RISPERIDONE
     Dosage: 3 MG, BID
     Route: 065
  734. RISPERDAL [Suspect]
     Active Substance: RISPERIDONE
     Dosage: 3 MG, BID
     Route: 065
  735. RISPERDAL [Suspect]
     Active Substance: RISPERIDONE
     Dosage: 1 G, QD
  736. RISPERDAL [Suspect]
     Active Substance: RISPERIDONE
     Dosage: 1 G, QD
  737. RISPERDAL [Suspect]
     Active Substance: RISPERIDONE
     Dosage: 1 G, QD
     Route: 065
  738. RISPERDAL [Suspect]
     Active Substance: RISPERIDONE
     Dosage: 1 G, QD
     Route: 065
  739. RISPERDAL [Suspect]
     Active Substance: RISPERIDONE
     Dosage: 4 MG, QD
  740. RISPERDAL [Suspect]
     Active Substance: RISPERIDONE
     Dosage: 4 MG, QD
  741. RISPERDAL [Suspect]
     Active Substance: RISPERIDONE
     Dosage: 4 MG, QD
     Route: 065
  742. RISPERDAL [Suspect]
     Active Substance: RISPERIDONE
     Dosage: 4 MG, QD
     Route: 065
  743. RISPERDAL [Suspect]
     Active Substance: RISPERIDONE
     Dosage: 6 MG, QD
  744. RISPERDAL [Suspect]
     Active Substance: RISPERIDONE
     Dosage: 6 MG, QD
  745. RISPERDAL [Suspect]
     Active Substance: RISPERIDONE
     Dosage: 6 MG, QD
     Route: 065
  746. RISPERDAL [Suspect]
     Active Substance: RISPERIDONE
     Dosage: 6 MG, QD
     Route: 065
  747. RISPERDAL [Suspect]
     Active Substance: RISPERIDONE
     Dosage: 6 MG, QD
  748. RISPERDAL [Suspect]
     Active Substance: RISPERIDONE
     Dosage: 6 MG, QD
  749. RISPERDAL [Suspect]
     Active Substance: RISPERIDONE
     Dosage: 6 MG, QD
     Route: 065
  750. RISPERDAL [Suspect]
     Active Substance: RISPERIDONE
     Dosage: 6 MG, QD
     Route: 065
  751. RISPERDAL [Suspect]
     Active Substance: RISPERIDONE
     Dosage: 6 MG, QD
  752. RISPERDAL [Suspect]
     Active Substance: RISPERIDONE
     Dosage: 6 MG, QD
  753. RISPERDAL [Suspect]
     Active Substance: RISPERIDONE
     Dosage: 6 MG, QD
     Route: 065
  754. RISPERDAL [Suspect]
     Active Substance: RISPERIDONE
     Dosage: 6 MG, QD
     Route: 065
  755. RISPERDAL [Suspect]
     Active Substance: RISPERIDONE
     Dosage: 1 G, QD
  756. RISPERDAL [Suspect]
     Active Substance: RISPERIDONE
     Dosage: 1 G, QD
  757. RISPERDAL [Suspect]
     Active Substance: RISPERIDONE
     Dosage: 1 G, QD
     Route: 065
  758. RISPERDAL [Suspect]
     Active Substance: RISPERIDONE
     Dosage: 1 G, QD
     Route: 065
  759. RISPERDAL [Suspect]
     Active Substance: RISPERIDONE
     Dosage: 1 MG, QD
  760. RISPERDAL [Suspect]
     Active Substance: RISPERIDONE
     Dosage: 1 MG, QD
  761. RISPERDAL [Suspect]
     Active Substance: RISPERIDONE
     Dosage: 1 MG, QD
     Route: 065
  762. RISPERDAL [Suspect]
     Active Substance: RISPERIDONE
     Dosage: 1 MG, QD
     Route: 065
  763. RISPERDAL [Suspect]
     Active Substance: RISPERIDONE
     Dosage: 1 MG, QD
  764. RISPERDAL [Suspect]
     Active Substance: RISPERIDONE
     Dosage: 1 MG, QD
  765. RISPERDAL [Suspect]
     Active Substance: RISPERIDONE
     Dosage: 1 MG, QD
     Route: 065
  766. RISPERDAL [Suspect]
     Active Substance: RISPERIDONE
     Dosage: 1 MG, QD
     Route: 065
  767. RISPERDAL [Suspect]
     Active Substance: RISPERIDONE
     Dosage: 4 MG, QD
  768. RISPERDAL [Suspect]
     Active Substance: RISPERIDONE
     Dosage: 4 MG, QD
  769. RISPERDAL [Suspect]
     Active Substance: RISPERIDONE
     Dosage: 4 MG, QD
     Route: 065
  770. RISPERDAL [Suspect]
     Active Substance: RISPERIDONE
     Dosage: 4 MG, QD
     Route: 065
  771. RISPERDAL [Suspect]
     Active Substance: RISPERIDONE
     Dosage: 1 MG, QD
  772. RISPERDAL [Suspect]
     Active Substance: RISPERIDONE
     Dosage: 1 MG, QD
  773. RISPERDAL [Suspect]
     Active Substance: RISPERIDONE
     Dosage: 1 MG, QD
     Route: 065
  774. RISPERDAL [Suspect]
     Active Substance: RISPERIDONE
     Dosage: 1 MG, QD
     Route: 065
  775. RISPERDAL [Suspect]
     Active Substance: RISPERIDONE
     Dosage: 1 MG, QD
  776. RISPERDAL [Suspect]
     Active Substance: RISPERIDONE
     Dosage: 1 MG, QD
  777. RISPERDAL [Suspect]
     Active Substance: RISPERIDONE
     Dosage: 1 MG, QD
     Route: 065
  778. RISPERDAL [Suspect]
     Active Substance: RISPERIDONE
     Dosage: 1 MG, QD
     Route: 065
  779. RISPERDAL [Suspect]
     Active Substance: RISPERIDONE
     Dosage: 4 MG, QD
  780. RISPERDAL [Suspect]
     Active Substance: RISPERIDONE
     Dosage: 4 MG, QD
  781. RISPERDAL [Suspect]
     Active Substance: RISPERIDONE
     Dosage: 4 MG, QD
     Route: 065
  782. RISPERDAL [Suspect]
     Active Substance: RISPERIDONE
     Dosage: 4 MG, QD
     Route: 065
  783. RISPERDAL [Suspect]
     Active Substance: RISPERIDONE
     Dosage: 4 MG, QD
  784. RISPERDAL [Suspect]
     Active Substance: RISPERIDONE
     Dosage: 4 MG, QD
  785. RISPERDAL [Suspect]
     Active Substance: RISPERIDONE
     Dosage: 4 MG, QD
     Route: 065
  786. RISPERDAL [Suspect]
     Active Substance: RISPERIDONE
     Dosage: 4 MG, QD
     Route: 065
  787. RISPERDAL [Suspect]
     Active Substance: RISPERIDONE
     Dosage: 6 MG, QD
  788. RISPERDAL [Suspect]
     Active Substance: RISPERIDONE
     Dosage: 6 MG, QD
  789. RISPERDAL [Suspect]
     Active Substance: RISPERIDONE
     Dosage: 6 MG, QD
     Route: 065
  790. RISPERDAL [Suspect]
     Active Substance: RISPERIDONE
     Dosage: 6 MG, QD
     Route: 065
  791. RISPERDAL [Suspect]
     Active Substance: RISPERIDONE
     Dosage: 4 MG, QD
  792. RISPERDAL [Suspect]
     Active Substance: RISPERIDONE
     Dosage: 4 MG, QD
  793. RISPERDAL [Suspect]
     Active Substance: RISPERIDONE
     Dosage: 4 MG, QD
     Route: 065
  794. RISPERDAL [Suspect]
     Active Substance: RISPERIDONE
     Dosage: 4 MG, QD
     Route: 065
  795. RISPERDAL [Suspect]
     Active Substance: RISPERIDONE
     Dosage: 4 MG, QD
  796. RISPERDAL [Suspect]
     Active Substance: RISPERIDONE
     Dosage: 4 MG, QD
  797. RISPERDAL [Suspect]
     Active Substance: RISPERIDONE
     Dosage: 4 MG, QD
     Route: 065
  798. RISPERDAL [Suspect]
     Active Substance: RISPERIDONE
     Dosage: 4 MG, QD
     Route: 065
  799. RISPERDAL [Suspect]
     Active Substance: RISPERIDONE
     Dosage: 4 MG, QD
  800. RISPERDAL [Suspect]
     Active Substance: RISPERIDONE
     Dosage: 4 MG, QD
  801. RISPERDAL [Suspect]
     Active Substance: RISPERIDONE
     Dosage: 6 MG, QD
  802. RISPERDAL [Suspect]
     Active Substance: RISPERIDONE
     Dosage: 6 MG, QD
  803. RISPERDAL [Suspect]
     Active Substance: RISPERIDONE
     Dosage: 6 MG, QD
     Route: 065
  804. RISPERDAL [Suspect]
     Active Substance: RISPERIDONE
     Dosage: 6 MG, QD
     Route: 065
  805. RISPERDAL [Suspect]
     Active Substance: RISPERIDONE
     Dosage: 6 MG, QD
  806. RISPERDAL [Suspect]
     Active Substance: RISPERIDONE
     Dosage: 6 MG, QD
  807. RISPERDAL [Suspect]
     Active Substance: RISPERIDONE
     Dosage: 1 G, QD
  808. RISPERDAL [Suspect]
     Active Substance: RISPERIDONE
     Dosage: 1 G, QD
  809. RISPERDAL [Suspect]
     Active Substance: RISPERIDONE
     Dosage: 1 G, QD
     Route: 065
  810. RISPERDAL [Suspect]
     Active Substance: RISPERIDONE
     Dosage: 1 G, QD
     Route: 065
  811. RISPERDAL [Suspect]
     Active Substance: RISPERIDONE
     Dosage: 6 MG, QD
  812. RISPERDAL [Suspect]
     Active Substance: RISPERIDONE
     Dosage: 6 MG, QD
  813. RISPERDAL [Suspect]
     Active Substance: RISPERIDONE
     Dosage: 6 MG, QD
     Route: 065
  814. RISPERDAL [Suspect]
     Active Substance: RISPERIDONE
     Dosage: 6 MG, QD
     Route: 065
  815. RISPERDAL [Suspect]
     Active Substance: RISPERIDONE
     Dosage: 1 G, QD
  816. RISPERDAL [Suspect]
     Active Substance: RISPERIDONE
     Dosage: 1 G, QD
  817. RISPERDAL [Suspect]
     Active Substance: RISPERIDONE
     Dosage: 1 G, QD
     Route: 065
  818. RISPERDAL [Suspect]
     Active Substance: RISPERIDONE
     Dosage: 1 G, QD
     Route: 065
  819. RISPERDAL [Suspect]
     Active Substance: RISPERIDONE
     Dosage: 1 MG, QD
  820. RISPERDAL [Suspect]
     Active Substance: RISPERIDONE
     Dosage: 1 MG, QD
  821. RISPERDAL [Suspect]
     Active Substance: RISPERIDONE
     Dosage: 1 MG, QD
     Route: 065
  822. RISPERDAL [Suspect]
     Active Substance: RISPERIDONE
     Dosage: 1 MG, QD
     Route: 065
  823. RISPERDAL [Suspect]
     Active Substance: RISPERIDONE
     Dosage: 1 G, QD
  824. RISPERDAL [Suspect]
     Active Substance: RISPERIDONE
     Dosage: 1 G, QD
  825. RISPERDAL [Suspect]
     Active Substance: RISPERIDONE
     Dosage: 6 MG, QD
  826. RISPERDAL [Suspect]
     Active Substance: RISPERIDONE
     Dosage: 6 MG, QD
  827. TRASTUZUMAB [Suspect]
     Active Substance: TRASTUZUMAB
     Indication: Breast cancer metastatic
     Dosage: 609 MILLIGRAM, Q3W
     Route: 042
     Dates: start: 20150930
  828. TRASTUZUMAB [Suspect]
     Active Substance: TRASTUZUMAB
     Dosage: 609 MILLIGRAM, Q3W
     Dates: start: 20150930
  829. TRASTUZUMAB [Suspect]
     Active Substance: TRASTUZUMAB
     Dosage: 609 MILLIGRAM, Q3W
     Dates: start: 20150930
  830. TRASTUZUMAB [Suspect]
     Active Substance: TRASTUZUMAB
     Dosage: 609 MILLIGRAM, Q3W
     Route: 042
     Dates: start: 20150930
  831. TRASTUZUMAB [Suspect]
     Active Substance: TRASTUZUMAB
     Dosage: 1218 MILLIGRAM, QW
     Route: 042
     Dates: start: 20150930
  832. TRASTUZUMAB [Suspect]
     Active Substance: TRASTUZUMAB
     Dosage: 1218 MILLIGRAM, QW
     Dates: start: 20150930
  833. TRASTUZUMAB [Suspect]
     Active Substance: TRASTUZUMAB
     Dosage: 1218 MILLIGRAM, QW
     Dates: start: 20150930
  834. TRASTUZUMAB [Suspect]
     Active Substance: TRASTUZUMAB
     Dosage: 1218 MILLIGRAM, QW
     Route: 042
     Dates: start: 20150930
  835. TRASTUZUMAB [Suspect]
     Active Substance: TRASTUZUMAB
  836. TRASTUZUMAB [Suspect]
     Active Substance: TRASTUZUMAB
  837. TRASTUZUMAB [Suspect]
     Active Substance: TRASTUZUMAB
     Route: 065
  838. TRASTUZUMAB [Suspect]
     Active Substance: TRASTUZUMAB
     Route: 065
  839. TRASTUZUMAB [Suspect]
     Active Substance: TRASTUZUMAB
     Dosage: 420 MILLIGRAM, Q3W
  840. TRASTUZUMAB [Suspect]
     Active Substance: TRASTUZUMAB
     Dosage: 420 MILLIGRAM, Q3W
  841. TRASTUZUMAB [Suspect]
     Active Substance: TRASTUZUMAB
     Dosage: 420 MILLIGRAM, Q3W
     Route: 065
  842. TRASTUZUMAB [Suspect]
     Active Substance: TRASTUZUMAB
     Dosage: 420 MILLIGRAM, Q3W
     Route: 065
  843. LITHIUM [Suspect]
     Active Substance: LITHIUM
     Indication: Schizophrenia
     Route: 065
  844. LITHIUM [Suspect]
     Active Substance: LITHIUM
     Route: 065
  845. LITHIUM [Suspect]
     Active Substance: LITHIUM
  846. LITHIUM [Suspect]
     Active Substance: LITHIUM
  847. LITHIUM [Suspect]
     Active Substance: LITHIUM
     Route: 065
  848. LITHIUM [Suspect]
     Active Substance: LITHIUM
  849. LITHIUM [Suspect]
     Active Substance: LITHIUM
  850. LITHIUM [Suspect]
     Active Substance: LITHIUM
     Route: 065
  851. LITHIUM [Suspect]
     Active Substance: LITHIUM
     Route: 048
  852. LITHIUM [Suspect]
     Active Substance: LITHIUM
  853. LITHIUM [Suspect]
     Active Substance: LITHIUM
     Route: 048
  854. LITHIUM [Suspect]
     Active Substance: LITHIUM
  855. LITHIUM [Suspect]
     Active Substance: LITHIUM
     Dosage: 6 MILLIGRAM, QD ONCE A DAY
  856. LITHIUM [Suspect]
     Active Substance: LITHIUM
     Dosage: 6 MILLIGRAM, QD ONCE A DAY
  857. LITHIUM [Suspect]
     Active Substance: LITHIUM
     Dosage: 6 MILLIGRAM, QD ONCE A DAY
     Route: 065
  858. LITHIUM [Suspect]
     Active Substance: LITHIUM
     Dosage: 6 MILLIGRAM, QD ONCE A DAY
     Route: 065
  859. LITHIUM [Suspect]
     Active Substance: LITHIUM
  860. LITHIUM [Suspect]
     Active Substance: LITHIUM
  861. LITHIUM [Suspect]
     Active Substance: LITHIUM
     Route: 048
  862. LITHIUM [Suspect]
     Active Substance: LITHIUM
     Route: 048
  863. LITHIUM [Suspect]
     Active Substance: LITHIUM
     Route: 048
  864. LITHIUM [Suspect]
     Active Substance: LITHIUM
     Route: 048
  865. LITHIUM [Suspect]
     Active Substance: LITHIUM
  866. LITHIUM [Suspect]
     Active Substance: LITHIUM
  867. LITHIUM [Suspect]
     Active Substance: LITHIUM
     Route: 065
  868. LITHIUM [Suspect]
     Active Substance: LITHIUM
  869. LITHIUM [Suspect]
     Active Substance: LITHIUM
  870. LITHIUM [Suspect]
     Active Substance: LITHIUM
     Route: 065
  871. LITHIUM [Suspect]
     Active Substance: LITHIUM
     Route: 048
  872. LITHIUM [Suspect]
     Active Substance: LITHIUM
  873. LITHIUM [Suspect]
     Active Substance: LITHIUM
  874. LITHIUM [Suspect]
     Active Substance: LITHIUM
     Route: 048
  875. LITHIUM [Suspect]
     Active Substance: LITHIUM
  876. LITHIUM [Suspect]
     Active Substance: LITHIUM
  877. LITHIUM [Suspect]
     Active Substance: LITHIUM
     Route: 048
  878. LITHIUM [Suspect]
     Active Substance: LITHIUM
     Route: 048
  879. LITHIUM [Suspect]
     Active Substance: LITHIUM
     Route: 048
  880. LITHIUM [Suspect]
     Active Substance: LITHIUM
  881. LITHIUM [Suspect]
     Active Substance: LITHIUM
  882. LITHIUM [Suspect]
     Active Substance: LITHIUM
     Route: 048
  883. LITHIUM [Suspect]
     Active Substance: LITHIUM
     Route: 065
  884. LITHIUM [Suspect]
     Active Substance: LITHIUM
  885. LITHIUM [Suspect]
     Active Substance: LITHIUM
  886. LITHIUM [Suspect]
     Active Substance: LITHIUM
     Route: 065
  887. LITHIUM [Suspect]
     Active Substance: LITHIUM
  888. LITHIUM [Suspect]
     Active Substance: LITHIUM
  889. LITHIUM [Suspect]
     Active Substance: LITHIUM
     Route: 065
  890. LITHIUM [Suspect]
     Active Substance: LITHIUM
     Route: 065
  891. LITHIUM [Suspect]
     Active Substance: LITHIUM
  892. LITHIUM [Suspect]
     Active Substance: LITHIUM
  893. LITHIUM [Suspect]
     Active Substance: LITHIUM
     Route: 065
  894. LITHIUM [Suspect]
     Active Substance: LITHIUM
     Route: 065
  895. LITHIUM [Suspect]
     Active Substance: LITHIUM
  896. LITHIUM [Suspect]
     Active Substance: LITHIUM
  897. LITHIUM [Suspect]
     Active Substance: LITHIUM
     Route: 065
  898. LITHIUM [Suspect]
     Active Substance: LITHIUM
     Route: 065
  899. LITHIUM [Suspect]
     Active Substance: LITHIUM
     Dosage: 6 MG, DAILY
     Route: 065
  900. LITHIUM [Suspect]
     Active Substance: LITHIUM
     Dosage: 6 MG, DAILY
  901. LITHIUM [Suspect]
     Active Substance: LITHIUM
     Dosage: 6 MG, DAILY
  902. LITHIUM [Suspect]
     Active Substance: LITHIUM
     Dosage: 6 MG, DAILY
     Route: 065
  903. LITHIUM [Suspect]
     Active Substance: LITHIUM
     Route: 048
  904. LITHIUM [Suspect]
     Active Substance: LITHIUM
  905. LITHIUM [Suspect]
     Active Substance: LITHIUM
  906. LITHIUM [Suspect]
     Active Substance: LITHIUM
     Route: 048
  907. LITHIUM [Suspect]
     Active Substance: LITHIUM
  908. LITHIUM [Suspect]
     Active Substance: LITHIUM
  909. LITHIUM [Suspect]
     Active Substance: LITHIUM
     Route: 065
  910. LITHIUM [Suspect]
     Active Substance: LITHIUM
     Route: 065
  911. LITHIUM [Suspect]
     Active Substance: LITHIUM
  912. LITHIUM [Suspect]
     Active Substance: LITHIUM
     Route: 048
  913. LITHIUM [Suspect]
     Active Substance: LITHIUM
  914. LITHIUM [Suspect]
     Active Substance: LITHIUM
     Route: 048
  915. CHLORPROMAZINE [Suspect]
     Active Substance: CHLORPROMAZINE
     Indication: Schizophrenia
  916. CHLORPROMAZINE [Suspect]
     Active Substance: CHLORPROMAZINE
     Indication: Breast cancer metastatic
  917. CHLORPROMAZINE [Suspect]
     Active Substance: CHLORPROMAZINE
     Indication: Schizophrenia
     Route: 065
  918. CHLORPROMAZINE [Suspect]
     Active Substance: CHLORPROMAZINE
     Route: 065
  919. CHLORPROMAZINE [Suspect]
     Active Substance: CHLORPROMAZINE
     Route: 065
  920. CHLORPROMAZINE [Suspect]
     Active Substance: CHLORPROMAZINE
  921. CHLORPROMAZINE [Suspect]
     Active Substance: CHLORPROMAZINE
  922. CHLORPROMAZINE [Suspect]
     Active Substance: CHLORPROMAZINE
     Route: 065
  923. CHLORPROMAZINE [Suspect]
     Active Substance: CHLORPROMAZINE
  924. CHLORPROMAZINE [Suspect]
     Active Substance: CHLORPROMAZINE
  925. CHLORPROMAZINE [Suspect]
     Active Substance: CHLORPROMAZINE
     Route: 065
  926. CHLORPROMAZINE [Suspect]
     Active Substance: CHLORPROMAZINE
     Route: 065
  927. CHLORPROMAZINE [Suspect]
     Active Substance: CHLORPROMAZINE
  928. CHLORPROMAZINE [Suspect]
     Active Substance: CHLORPROMAZINE
  929. CHLORPROMAZINE [Suspect]
     Active Substance: CHLORPROMAZINE
     Route: 065
  930. CHLORPROMAZINE [Suspect]
     Active Substance: CHLORPROMAZINE
     Route: 065
  931. CHLORPROMAZINE [Suspect]
     Active Substance: CHLORPROMAZINE
     Route: 065
  932. CHLORPROMAZINE [Suspect]
     Active Substance: CHLORPROMAZINE
  933. CHLORPROMAZINE [Suspect]
     Active Substance: CHLORPROMAZINE
  934. CHLORPROMAZINE [Suspect]
     Active Substance: CHLORPROMAZINE
     Route: 065
  935. CHLORPROMAZINE [Suspect]
     Active Substance: CHLORPROMAZINE
  936. CHLORPROMAZINE [Suspect]
     Active Substance: CHLORPROMAZINE
  937. CHLORPROMAZINE [Suspect]
     Active Substance: CHLORPROMAZINE
     Route: 065
  938. CHLORPROMAZINE [Suspect]
     Active Substance: CHLORPROMAZINE
     Route: 065
  939. CHLORPROMAZINE [Suspect]
     Active Substance: CHLORPROMAZINE
  940. CHLORPROMAZINE [Suspect]
     Active Substance: CHLORPROMAZINE
  941. CHLORPROMAZINE [Suspect]
     Active Substance: CHLORPROMAZINE
     Route: 065
  942. CHLORPROMAZINE [Suspect]
     Active Substance: CHLORPROMAZINE
     Route: 065
  943. CHLORPROMAZINE [Suspect]
     Active Substance: CHLORPROMAZINE
  944. CHLORPROMAZINE [Suspect]
     Active Substance: CHLORPROMAZINE
  945. CHLORPROMAZINE [Suspect]
     Active Substance: CHLORPROMAZINE
     Route: 065
  946. CHLORPROMAZINE [Suspect]
     Active Substance: CHLORPROMAZINE
     Route: 065
  947. CHLORPROMAZINE [Suspect]
     Active Substance: CHLORPROMAZINE
  948. CHLORPROMAZINE [Suspect]
     Active Substance: CHLORPROMAZINE
  949. CHLORPROMAZINE [Suspect]
     Active Substance: CHLORPROMAZINE
     Route: 065
  950. CHLORPROMAZINE [Suspect]
     Active Substance: CHLORPROMAZINE
     Route: 065
  951. CHLORPROMAZINE [Suspect]
     Active Substance: CHLORPROMAZINE
  952. CHLORPROMAZINE [Suspect]
     Active Substance: CHLORPROMAZINE
     Route: 065
  953. CHLORPROMAZINE [Suspect]
     Active Substance: CHLORPROMAZINE
  954. CHLORPROMAZINE [Suspect]
     Active Substance: CHLORPROMAZINE
     Route: 065
  955. ZUCLOPENTHIXOL [Suspect]
     Active Substance: ZUCLOPENTHIXOL
     Indication: Schizophrenia
  956. ZUCLOPENTHIXOL [Suspect]
     Active Substance: ZUCLOPENTHIXOL
  957. ZUCLOPENTHIXOL [Suspect]
     Active Substance: ZUCLOPENTHIXOL
     Route: 065
  958. ZUCLOPENTHIXOL [Suspect]
     Active Substance: ZUCLOPENTHIXOL
     Route: 065
  959. ZUCLOPENTHIXOL [Suspect]
     Active Substance: ZUCLOPENTHIXOL
     Route: 065
     Dates: start: 20030204, end: 20040217
  960. ZUCLOPENTHIXOL [Suspect]
     Active Substance: ZUCLOPENTHIXOL
     Route: 065
     Dates: start: 20030204, end: 20040217
  961. ZUCLOPENTHIXOL [Suspect]
     Active Substance: ZUCLOPENTHIXOL
     Dates: start: 20030204, end: 20040217
  962. ZUCLOPENTHIXOL [Suspect]
     Active Substance: ZUCLOPENTHIXOL
     Dates: start: 20030204, end: 20040217
  963. ZUCLOPENTHIXOL [Suspect]
     Active Substance: ZUCLOPENTHIXOL
     Dosage: 400 MILLIGRAM, WEEKLY
     Dates: start: 20040217, end: 20040601
  964. ZUCLOPENTHIXOL [Suspect]
     Active Substance: ZUCLOPENTHIXOL
     Dosage: 400 MILLIGRAM, WEEKLY
     Dates: start: 20040217, end: 20040601
  965. ZUCLOPENTHIXOL [Suspect]
     Active Substance: ZUCLOPENTHIXOL
     Dosage: 400 MILLIGRAM, WEEKLY
     Route: 065
     Dates: start: 20040217, end: 20040601
  966. ZUCLOPENTHIXOL [Suspect]
     Active Substance: ZUCLOPENTHIXOL
     Dosage: 400 MILLIGRAM, WEEKLY
     Route: 065
     Dates: start: 20040217, end: 20040601
  967. ZUCLOPENTHIXOL [Suspect]
     Active Substance: ZUCLOPENTHIXOL
     Route: 065
     Dates: start: 20040601, end: 20041018
  968. ZUCLOPENTHIXOL [Suspect]
     Active Substance: ZUCLOPENTHIXOL
     Route: 065
     Dates: start: 20040601, end: 20041018
  969. ZUCLOPENTHIXOL [Suspect]
     Active Substance: ZUCLOPENTHIXOL
     Dates: start: 20040601, end: 20041018
  970. ZUCLOPENTHIXOL [Suspect]
     Active Substance: ZUCLOPENTHIXOL
     Dates: start: 20040601, end: 20041018
  971. ZUCLOPENTHIXOL [Suspect]
     Active Substance: ZUCLOPENTHIXOL
     Dosage: 300 MILLIGRAM,QD (300 MG I.M WEEKLY
     Dates: start: 20091009
  972. ZUCLOPENTHIXOL [Suspect]
     Active Substance: ZUCLOPENTHIXOL
     Dosage: 300 MILLIGRAM,QD (300 MG I.M WEEKLY
     Dates: start: 20091009
  973. ZUCLOPENTHIXOL [Suspect]
     Active Substance: ZUCLOPENTHIXOL
     Dosage: 300 MILLIGRAM,QD (300 MG I.M WEEKLY
     Route: 030
     Dates: start: 20091009
  974. ZUCLOPENTHIXOL [Suspect]
     Active Substance: ZUCLOPENTHIXOL
     Dosage: 300 MILLIGRAM,QD (300 MG I.M WEEKLY
     Route: 030
     Dates: start: 20091009
  975. ZUCLOPENTHIXOL [Suspect]
     Active Substance: ZUCLOPENTHIXOL
     Dates: start: 20040601, end: 20041018
  976. ZUCLOPENTHIXOL [Suspect]
     Active Substance: ZUCLOPENTHIXOL
     Dates: start: 20040601, end: 20041018
  977. ZUCLOPENTHIXOL [Suspect]
     Active Substance: ZUCLOPENTHIXOL
     Route: 065
     Dates: start: 20040601, end: 20041018
  978. ZUCLOPENTHIXOL [Suspect]
     Active Substance: ZUCLOPENTHIXOL
     Route: 065
     Dates: start: 20040601, end: 20041018
  979. ZUCLOPENTHIXOL [Suspect]
     Active Substance: ZUCLOPENTHIXOL
     Dosage: 300 MG, WEEKLY
     Dates: start: 20090918
  980. ZUCLOPENTHIXOL [Suspect]
     Active Substance: ZUCLOPENTHIXOL
     Dosage: 300 MG, WEEKLY
     Dates: start: 20090918
  981. ZUCLOPENTHIXOL [Suspect]
     Active Substance: ZUCLOPENTHIXOL
     Dosage: 300 MG, WEEKLY
     Route: 030
     Dates: start: 20090918
  982. ZUCLOPENTHIXOL [Suspect]
     Active Substance: ZUCLOPENTHIXOL
     Dosage: 300 MG, WEEKLY
     Route: 030
     Dates: start: 20090918
  983. ZUCLOPENTHIXOL [Suspect]
     Active Substance: ZUCLOPENTHIXOL
     Route: 065
     Dates: start: 20030204, end: 20040217
  984. ZUCLOPENTHIXOL [Suspect]
     Active Substance: ZUCLOPENTHIXOL
     Dates: start: 20030204, end: 20040217
  985. ZUCLOPENTHIXOL [Suspect]
     Active Substance: ZUCLOPENTHIXOL
     Dates: start: 20030204, end: 20040217
  986. ZUCLOPENTHIXOL [Suspect]
     Active Substance: ZUCLOPENTHIXOL
     Route: 065
     Dates: start: 20030204, end: 20040217
  987. ZUCLOPENTHIXOL [Suspect]
     Active Substance: ZUCLOPENTHIXOL
     Route: 065
     Dates: start: 20041018, end: 20041018
  988. ZUCLOPENTHIXOL [Suspect]
     Active Substance: ZUCLOPENTHIXOL
     Route: 065
     Dates: start: 20041018, end: 20041018
  989. ZUCLOPENTHIXOL [Suspect]
     Active Substance: ZUCLOPENTHIXOL
     Dates: start: 20041018, end: 20041018
  990. ZUCLOPENTHIXOL [Suspect]
     Active Substance: ZUCLOPENTHIXOL
     Dates: start: 20041018, end: 20041018
  991. ZUCLOPENTHIXOL [Suspect]
     Active Substance: ZUCLOPENTHIXOL
     Dosage: 800 MILLIGRAM, QW (400 MG, 2/W
     Route: 065
     Dates: start: 20040601, end: 20041018
  992. ZUCLOPENTHIXOL [Suspect]
     Active Substance: ZUCLOPENTHIXOL
     Dosage: 800 MILLIGRAM, QW (400 MG, 2/W
     Route: 065
     Dates: start: 20040601, end: 20041018
  993. ZUCLOPENTHIXOL [Suspect]
     Active Substance: ZUCLOPENTHIXOL
     Dosage: 800 MILLIGRAM, QW (400 MG, 2/W
     Dates: start: 20040601, end: 20041018
  994. ZUCLOPENTHIXOL [Suspect]
     Active Substance: ZUCLOPENTHIXOL
     Dosage: 800 MILLIGRAM, QW (400 MG, 2/W
     Dates: start: 20040601, end: 20041018
  995. ZUCLOPENTHIXOL [Suspect]
     Active Substance: ZUCLOPENTHIXOL
     Dosage: 800 MILLIGRAM, QW (400 MG, 2/W)
     Route: 065
     Dates: start: 20030204, end: 20040217
  996. ZUCLOPENTHIXOL [Suspect]
     Active Substance: ZUCLOPENTHIXOL
     Dosage: 800 MILLIGRAM, QW (400 MG, 2/W)
     Route: 065
     Dates: start: 20030204, end: 20040217
  997. ZUCLOPENTHIXOL [Suspect]
     Active Substance: ZUCLOPENTHIXOL
     Dosage: 800 MILLIGRAM, QW (400 MG, 2/W)
     Dates: start: 20030204, end: 20040217
  998. ZUCLOPENTHIXOL [Suspect]
     Active Substance: ZUCLOPENTHIXOL
     Dosage: 800 MILLIGRAM, QW (400 MG, 2/W)
     Dates: start: 20030204, end: 20040217
  999. ZUCLOPENTHIXOL [Suspect]
     Active Substance: ZUCLOPENTHIXOL
     Dosage: 400 MILLIGRAM, BIWEEKLY
     Dates: start: 20040217, end: 20040601
  1000. ZUCLOPENTHIXOL [Suspect]
     Active Substance: ZUCLOPENTHIXOL
     Dosage: 400 MILLIGRAM, BIWEEKLY
     Route: 030
     Dates: start: 20040217, end: 20040601
  1001. ZUCLOPENTHIXOL [Suspect]
     Active Substance: ZUCLOPENTHIXOL
     Dosage: 400 MILLIGRAM, BIWEEKLY
     Dates: start: 20040217, end: 20040601
  1002. ZUCLOPENTHIXOL [Suspect]
     Active Substance: ZUCLOPENTHIXOL
     Dosage: 400 MILLIGRAM, BIWEEKLY
     Route: 030
     Dates: start: 20040217, end: 20040601
  1003. ZUCLOPENTHIXOL [Suspect]
     Active Substance: ZUCLOPENTHIXOL
     Dosage: 400 MILLIGRAM, EVERY WEEK
     Route: 065
  1004. ZUCLOPENTHIXOL [Suspect]
     Active Substance: ZUCLOPENTHIXOL
     Dosage: 400 MILLIGRAM, EVERY WEEK
     Route: 065
  1005. ZUCLOPENTHIXOL [Suspect]
     Active Substance: ZUCLOPENTHIXOL
     Dosage: 400 MILLIGRAM, EVERY WEEK
  1006. ZUCLOPENTHIXOL [Suspect]
     Active Substance: ZUCLOPENTHIXOL
     Dosage: 400 MILLIGRAM, EVERY WEEK
  1007. ZUCLOPENTHIXOL [Suspect]
     Active Substance: ZUCLOPENTHIXOL
     Indication: Product used for unknown indication
     Dates: start: 20040217, end: 20040601
  1008. ZUCLOPENTHIXOL [Suspect]
     Active Substance: ZUCLOPENTHIXOL
     Dates: start: 20040217, end: 20040601
  1009. ZUCLOPENTHIXOL [Suspect]
     Active Substance: ZUCLOPENTHIXOL
     Route: 065
     Dates: start: 20040217, end: 20040601
  1010. ZUCLOPENTHIXOL [Suspect]
     Active Substance: ZUCLOPENTHIXOL
     Route: 065
     Dates: start: 20040217, end: 20040601
  1011. ZUCLOPENTHIXOL [Suspect]
     Active Substance: ZUCLOPENTHIXOL
     Dosage: 300 MILLIGRAM, QW (300 MG, WEEKLY)
  1012. ZUCLOPENTHIXOL [Suspect]
     Active Substance: ZUCLOPENTHIXOL
     Dosage: 300 MILLIGRAM, QW (300 MG, WEEKLY)
  1013. ZUCLOPENTHIXOL [Suspect]
     Active Substance: ZUCLOPENTHIXOL
     Dosage: 300 MILLIGRAM, QW (300 MG, WEEKLY)
     Route: 065
  1014. ZUCLOPENTHIXOL [Suspect]
     Active Substance: ZUCLOPENTHIXOL
     Dosage: 300 MILLIGRAM, QW (300 MG, WEEKLY)
     Route: 065
  1015. PERTUZUMAB [Suspect]
     Active Substance: PERTUZUMAB
     Indication: Breast cancer metastatic
     Dosage: 840 MG Q3W (TOTAL DOSE: 2481.6667 MG)/30-SEP-2015
  1016. PERTUZUMAB [Suspect]
     Active Substance: PERTUZUMAB
     Dosage: 840 MG Q3W (TOTAL DOSE: 2481.6667 MG)/30-SEP-2015
  1017. PERTUZUMAB [Suspect]
     Active Substance: PERTUZUMAB
     Dosage: 840 MG Q3W (TOTAL DOSE: 2481.6667 MG)/30-SEP-2015
     Route: 042
  1018. PERTUZUMAB [Suspect]
     Active Substance: PERTUZUMAB
     Dosage: 840 MG Q3W (TOTAL DOSE: 2481.6667 MG)/30-SEP-2015
     Route: 042
  1019. PERTUZUMAB [Suspect]
     Active Substance: PERTUZUMAB
     Dosage: 420 MG, Q3W (CUMULATIVE DOSE: 820.83 MG)
     Dates: start: 20151021
  1020. PERTUZUMAB [Suspect]
     Active Substance: PERTUZUMAB
     Dosage: 420 MG, Q3W (CUMULATIVE DOSE: 820.83 MG)
     Dates: start: 20151021
  1021. PERTUZUMAB [Suspect]
     Active Substance: PERTUZUMAB
     Dosage: 420 MG, Q3W (CUMULATIVE DOSE: 820.83 MG)
     Route: 042
     Dates: start: 20151021
  1022. PERTUZUMAB [Suspect]
     Active Substance: PERTUZUMAB
     Dosage: 420 MG, Q3W (CUMULATIVE DOSE: 820.83 MG)
     Route: 042
     Dates: start: 20151021
  1023. PERTUZUMAB [Suspect]
     Active Substance: PERTUZUMAB
     Dosage: 2 INTERNATIONAL UNIT, QW (2 U, WEEKLY (1/W))
     Route: 042
  1024. PERTUZUMAB [Suspect]
     Active Substance: PERTUZUMAB
     Dosage: 2 INTERNATIONAL UNIT, QW (2 U, WEEKLY (1/W))
     Route: 042
  1025. PERTUZUMAB [Suspect]
     Active Substance: PERTUZUMAB
     Dosage: 2 INTERNATIONAL UNIT, QW (2 U, WEEKLY (1/W))
  1026. PERTUZUMAB [Suspect]
     Active Substance: PERTUZUMAB
     Dosage: 2 INTERNATIONAL UNIT, QW (2 U, WEEKLY (1/W))
  1027. PERTUZUMAB [Suspect]
     Active Substance: PERTUZUMAB
     Route: 065
  1028. PERTUZUMAB [Suspect]
     Active Substance: PERTUZUMAB
     Route: 065
  1029. PERTUZUMAB [Suspect]
     Active Substance: PERTUZUMAB
  1030. PERTUZUMAB [Suspect]
     Active Substance: PERTUZUMAB
  1031. PERTUZUMAB [Suspect]
     Active Substance: PERTUZUMAB
     Dosage: 2 INTERNATIONAL UNIT, QW (2 U, WEEKLY (1/W))
  1032. PERTUZUMAB [Suspect]
     Active Substance: PERTUZUMAB
     Dosage: 2 INTERNATIONAL UNIT, QW (2 U, WEEKLY (1/W))
  1033. PERTUZUMAB [Suspect]
     Active Substance: PERTUZUMAB
     Dosage: 2 INTERNATIONAL UNIT, QW (2 U, WEEKLY (1/W))
     Route: 065
  1034. PERTUZUMAB [Suspect]
     Active Substance: PERTUZUMAB
     Dosage: 2 INTERNATIONAL UNIT, QW (2 U, WEEKLY (1/W))
     Route: 065
  1035. PIPERACILLIN SODIUM\TAZOBACTAM SODIUM [Concomitant]
     Active Substance: PIPERACILLIN SODIUM\TAZOBACTAM SODIUM
     Indication: Febrile neutropenia
  1036. PIPERACILLIN SODIUM\TAZOBACTAM SODIUM [Concomitant]
     Active Substance: PIPERACILLIN SODIUM\TAZOBACTAM SODIUM
     Route: 065
  1037. PIPERACILLIN SODIUM\TAZOBACTAM SODIUM [Concomitant]
     Active Substance: PIPERACILLIN SODIUM\TAZOBACTAM SODIUM
     Route: 065
  1038. PIPERACILLIN SODIUM\TAZOBACTAM SODIUM [Concomitant]
     Active Substance: PIPERACILLIN SODIUM\TAZOBACTAM SODIUM
  1039. CHLORPHENIRAMINE MALEATE [Concomitant]
     Active Substance: CHLORPHENIRAMINE MALEATE
     Indication: Product used for unknown indication
     Dosage: 10 MG, WEEKLY (1/W)
     Dates: start: 20151111
  1040. CHLORPHENIRAMINE MALEATE [Concomitant]
     Active Substance: CHLORPHENIRAMINE MALEATE
     Dosage: 10 MG, WEEKLY (1/W)
     Route: 058
     Dates: start: 20151111
  1041. CHLORPHENIRAMINE MALEATE [Concomitant]
     Active Substance: CHLORPHENIRAMINE MALEATE
     Dosage: 10 MG, WEEKLY (1/W)
     Route: 058
     Dates: start: 20151111
  1042. CHLORPHENIRAMINE MALEATE [Concomitant]
     Active Substance: CHLORPHENIRAMINE MALEATE
     Dosage: 10 MG, WEEKLY (1/W)
     Dates: start: 20151111
  1043. RANITIDINE [Concomitant]
     Active Substance: RANITIDINE
     Indication: Gastrooesophageal reflux disease
     Dosage: 50 MG, QW (CUMULATIVE DOSE: 142.857)
     Dates: start: 20151111
  1044. RANITIDINE [Concomitant]
     Active Substance: RANITIDINE
     Dosage: 50 MG, QW (CUMULATIVE DOSE: 142.857)
     Dates: start: 20151111
  1045. RANITIDINE [Concomitant]
     Active Substance: RANITIDINE
     Dosage: 50 MG, QW (CUMULATIVE DOSE: 142.857)
     Route: 058
     Dates: start: 20151111
  1046. RANITIDINE [Concomitant]
     Active Substance: RANITIDINE
     Dosage: 50 MG, QW (CUMULATIVE DOSE: 142.857)
     Route: 058
     Dates: start: 20151111
  1047. RANITIDINE [Concomitant]
     Active Substance: RANITIDINE
     Dosage: 50 MILLIGRAM, QW
     Route: 065
  1048. RANITIDINE [Concomitant]
     Active Substance: RANITIDINE
     Dosage: 50 MILLIGRAM, QW
     Route: 065
  1049. RANITIDINE [Concomitant]
     Active Substance: RANITIDINE
     Dosage: 50 MILLIGRAM, QW
  1050. RANITIDINE [Concomitant]
     Active Substance: RANITIDINE
     Dosage: 50 MILLIGRAM, QW
  1051. RANITIDINE [Concomitant]
     Active Substance: RANITIDINE
     Dosage: 50 MG, WEEKLY (1/W)
  1052. RANITIDINE [Concomitant]
     Active Substance: RANITIDINE
     Dosage: 50 MG, WEEKLY (1/W)
  1053. RANITIDINE [Concomitant]
     Active Substance: RANITIDINE
     Dosage: 50 MG, WEEKLY (1/W)
     Route: 058
  1054. RANITIDINE [Concomitant]
     Active Substance: RANITIDINE
     Dosage: 50 MG, WEEKLY (1/W)
     Route: 058
  1055. RANITIDINE [Concomitant]
     Active Substance: RANITIDINE
     Dosage: 50 MG, WEEKLY (1/W)
     Route: 065
  1056. RANITIDINE [Concomitant]
     Active Substance: RANITIDINE
     Dosage: 50 MG, WEEKLY (1/W)
     Route: 065
  1057. RANITIDINE [Concomitant]
     Active Substance: RANITIDINE
     Dosage: 50 MG, WEEKLY (1/W)
  1058. RANITIDINE [Concomitant]
     Active Substance: RANITIDINE
     Dosage: 50 MG, WEEKLY (1/W)
  1059. RANITIDINE [Concomitant]
     Active Substance: RANITIDINE
     Dosage: 75 MILLIGRAM, QW
  1060. RANITIDINE [Concomitant]
     Active Substance: RANITIDINE
     Dosage: 75 MILLIGRAM, QW
     Route: 065
  1061. RANITIDINE [Concomitant]
     Active Substance: RANITIDINE
     Dosage: 75 MILLIGRAM, QW
  1062. RANITIDINE [Concomitant]
     Active Substance: RANITIDINE
     Dosage: 75 MILLIGRAM, QW
     Route: 065
  1063. DENOSUMAB [Concomitant]
     Active Substance: DENOSUMAB
     Indication: Metastases to bone
  1064. DENOSUMAB [Concomitant]
     Active Substance: DENOSUMAB
     Indication: Gastrooesophageal reflux disease
     Route: 058
  1065. DENOSUMAB [Concomitant]
     Active Substance: DENOSUMAB
     Route: 058
  1066. DENOSUMAB [Concomitant]
     Active Substance: DENOSUMAB
  1067. AMOXICILLIN\CLAVULANATE POTASSIUM [Concomitant]
     Active Substance: AMOXICILLIN\CLAVULANATE POTASSIUM
     Indication: Febrile neutropenia
     Dosage: 625 MG (EVERY 0.33 DAYS, CUMULATIVE DOSE: 16875)
     Dates: start: 20151122, end: 20151125
  1068. AMOXICILLIN\CLAVULANATE POTASSIUM [Concomitant]
     Active Substance: AMOXICILLIN\CLAVULANATE POTASSIUM
     Dosage: 625 MG (EVERY 0.33 DAYS, CUMULATIVE DOSE: 16875)
     Dates: start: 20151122, end: 20151125
  1069. AMOXICILLIN\CLAVULANATE POTASSIUM [Concomitant]
     Active Substance: AMOXICILLIN\CLAVULANATE POTASSIUM
     Dosage: 625 MG (EVERY 0.33 DAYS, CUMULATIVE DOSE: 16875)
     Route: 048
     Dates: start: 20151122, end: 20151125
  1070. AMOXICILLIN\CLAVULANATE POTASSIUM [Concomitant]
     Active Substance: AMOXICILLIN\CLAVULANATE POTASSIUM
     Dosage: 625 MG (EVERY 0.33 DAYS, CUMULATIVE DOSE: 16875)
     Route: 048
     Dates: start: 20151122, end: 20151125
  1071. AMOXICILLIN\CLAVULANATE POTASSIUM [Concomitant]
     Active Substance: AMOXICILLIN\CLAVULANATE POTASSIUM
     Dosage: 625 MG, QID
     Dates: start: 20151122, end: 20151125
  1072. AMOXICILLIN\CLAVULANATE POTASSIUM [Concomitant]
     Active Substance: AMOXICILLIN\CLAVULANATE POTASSIUM
     Dosage: 625 MG, QID
     Dates: start: 20151122, end: 20151125
  1073. AMOXICILLIN\CLAVULANATE POTASSIUM [Concomitant]
     Active Substance: AMOXICILLIN\CLAVULANATE POTASSIUM
     Dosage: 625 MG, QID
     Route: 048
     Dates: start: 20151122, end: 20151125
  1074. AMOXICILLIN\CLAVULANATE POTASSIUM [Concomitant]
     Active Substance: AMOXICILLIN\CLAVULANATE POTASSIUM
     Dosage: 625 MG, QID
     Route: 048
     Dates: start: 20151122, end: 20151125
  1075. CALCIUM\CHOLECALCIFEROL [Concomitant]
     Active Substance: CALCIUM\CHOLECALCIFEROL
     Indication: Product used for unknown indication
     Dosage: 2 DOSAGE FORM, QD, (DOSE FORM: 245)
     Dates: start: 20091018
  1076. CALCIUM\CHOLECALCIFEROL [Concomitant]
     Active Substance: CALCIUM\CHOLECALCIFEROL
     Dosage: 2 DOSAGE FORM, QD, (DOSE FORM: 245)
     Dates: start: 20091018
  1077. CALCIUM\CHOLECALCIFEROL [Concomitant]
     Active Substance: CALCIUM\CHOLECALCIFEROL
     Dosage: 2 DOSAGE FORM, QD, (DOSE FORM: 245)
     Route: 048
     Dates: start: 20091018
  1078. CALCIUM\CHOLECALCIFEROL [Concomitant]
     Active Substance: CALCIUM\CHOLECALCIFEROL
     Dosage: 2 DOSAGE FORM, QD, (DOSE FORM: 245)
     Route: 048
     Dates: start: 20091018
  1079. CALCIUM\CHOLECALCIFEROL [Concomitant]
     Active Substance: CALCIUM\CHOLECALCIFEROL
  1080. CALCIUM\CHOLECALCIFEROL [Concomitant]
     Active Substance: CALCIUM\CHOLECALCIFEROL
  1081. CALCIUM\CHOLECALCIFEROL [Concomitant]
     Active Substance: CALCIUM\CHOLECALCIFEROL
     Route: 065
  1082. CALCIUM\CHOLECALCIFEROL [Concomitant]
     Active Substance: CALCIUM\CHOLECALCIFEROL
     Route: 065
  1083. LEVOFLOXACIN [Concomitant]
     Active Substance: LEVOFLOXACIN
     Indication: Febrile neutropenia
     Dosage: 500 MG, DAILY
     Dates: start: 20151125
  1084. LEVOFLOXACIN [Concomitant]
     Active Substance: LEVOFLOXACIN
     Dosage: 500 MG, DAILY
     Route: 048
     Dates: start: 20151125
  1085. LEVOFLOXACIN [Concomitant]
     Active Substance: LEVOFLOXACIN
     Dosage: 500 MG, DAILY
     Route: 048
     Dates: start: 20151125
  1086. LEVOFLOXACIN [Concomitant]
     Active Substance: LEVOFLOXACIN
     Dosage: 500 MG, DAILY
     Dates: start: 20151125
  1087. MORPHINE SULFATE [Concomitant]
     Active Substance: MORPHINE SULFATE
     Indication: Product used for unknown indication
  1088. MORPHINE SULFATE [Concomitant]
     Active Substance: MORPHINE SULFATE
     Route: 065
  1089. MORPHINE SULFATE [Concomitant]
     Active Substance: MORPHINE SULFATE
     Route: 065
  1090. MORPHINE SULFATE [Concomitant]
     Active Substance: MORPHINE SULFATE
  1091. MIRTAZAPINE [Concomitant]
     Active Substance: MIRTAZAPINE
     Indication: Product used for unknown indication
     Dosage: 15 MILLIGRAM, QD/OCT-2015
     Dates: start: 201510
  1092. MIRTAZAPINE [Concomitant]
     Active Substance: MIRTAZAPINE
     Dosage: 15 MILLIGRAM, QD/OCT-2015
     Route: 048
     Dates: start: 201510
  1093. MIRTAZAPINE [Concomitant]
     Active Substance: MIRTAZAPINE
     Dosage: 15 MILLIGRAM, QD/OCT-2015
     Route: 048
     Dates: start: 201510
  1094. MIRTAZAPINE [Concomitant]
     Active Substance: MIRTAZAPINE
     Dosage: 15 MILLIGRAM, QD/OCT-2015
     Dates: start: 201510
  1095. PREGABALIN [Concomitant]
     Active Substance: PREGABALIN
     Indication: Product used for unknown indication
     Dosage: 75 MILLIGRAM, BID/SEP-2015(75 MG, EVERY 0.5 DAY)
     Dates: start: 201509
  1096. PREGABALIN [Concomitant]
     Active Substance: PREGABALIN
     Dosage: 75 MILLIGRAM, BID/SEP-2015(75 MG, EVERY 0.5 DAY)
     Dates: start: 201509
  1097. PREGABALIN [Concomitant]
     Active Substance: PREGABALIN
     Dosage: 75 MILLIGRAM, BID/SEP-2015(75 MG, EVERY 0.5 DAY)
     Route: 048
     Dates: start: 201509
  1098. PREGABALIN [Concomitant]
     Active Substance: PREGABALIN
     Dosage: 75 MILLIGRAM, BID/SEP-2015(75 MG, EVERY 0.5 DAY)
     Route: 048
     Dates: start: 201509
  1099. PREGABALIN [Concomitant]
     Active Substance: PREGABALIN
     Dosage: 75 MG, BID
     Dates: start: 201509
  1100. PREGABALIN [Concomitant]
     Active Substance: PREGABALIN
     Dosage: 75 MG, BID
     Dates: start: 201509
  1101. PREGABALIN [Concomitant]
     Active Substance: PREGABALIN
     Dosage: 75 MG, BID
     Route: 065
     Dates: start: 201509
  1102. PREGABALIN [Concomitant]
     Active Substance: PREGABALIN
     Dosage: 75 MG, BID
     Route: 065
     Dates: start: 201509
  1103. GENTAMICIN [Concomitant]
     Active Substance: GENTAMICIN
     Indication: Febrile neutropenia
  1104. GENTAMICIN [Concomitant]
     Active Substance: GENTAMICIN
     Route: 042
  1105. GENTAMICIN [Concomitant]
     Active Substance: GENTAMICIN
     Route: 042
  1106. GENTAMICIN [Concomitant]
     Active Substance: GENTAMICIN
  1107. MORPHINE [Concomitant]
     Active Substance: MORPHINE
     Indication: Pain
     Dosage: 30 MILLIGRAM, BID/SEP-2015(EVERY 0.5 DAY)
     Route: 048
  1108. MORPHINE [Concomitant]
     Active Substance: MORPHINE
     Dosage: 30 MILLIGRAM, BID/SEP-2015(EVERY 0.5 DAY)
  1109. MORPHINE [Concomitant]
     Active Substance: MORPHINE
     Dosage: 30 MILLIGRAM, BID/SEP-2015(EVERY 0.5 DAY)
  1110. MORPHINE [Concomitant]
     Active Substance: MORPHINE
     Dosage: 30 MILLIGRAM, BID/SEP-2015(EVERY 0.5 DAY)
     Route: 048
  1111. MORPHINE [Concomitant]
     Active Substance: MORPHINE
     Dosage: 30 MG, BID
     Route: 048
     Dates: start: 201509
  1112. MORPHINE [Concomitant]
     Active Substance: MORPHINE
     Dosage: 30 MG, BID
     Dates: start: 201509
  1113. MORPHINE [Concomitant]
     Active Substance: MORPHINE
     Dosage: 30 MG, BID
     Dates: start: 201509
  1114. MORPHINE [Concomitant]
     Active Substance: MORPHINE
     Dosage: 30 MG, BID
     Route: 048
     Dates: start: 201509
  1115. MORPHINE [Concomitant]
     Active Substance: MORPHINE
     Route: 065
  1116. MORPHINE [Concomitant]
     Active Substance: MORPHINE
  1117. MORPHINE [Concomitant]
     Active Substance: MORPHINE
  1118. MORPHINE [Concomitant]
     Active Substance: MORPHINE
     Route: 065
  1119. MORPHINE [Concomitant]
     Active Substance: MORPHINE
     Dosage: 15 MILLIGRAM, QD
     Dates: start: 201510
  1120. MORPHINE [Concomitant]
     Active Substance: MORPHINE
     Dosage: 15 MILLIGRAM, QD
     Dates: start: 201510
  1121. MORPHINE [Concomitant]
     Active Substance: MORPHINE
     Dosage: 15 MILLIGRAM, QD
     Route: 065
     Dates: start: 201510
  1122. MORPHINE [Concomitant]
     Active Substance: MORPHINE
     Dosage: 15 MILLIGRAM, QD
     Route: 065
     Dates: start: 201510
  1123. ACETAMINOPHEN [Concomitant]
     Active Substance: ACETAMINOPHEN
     Indication: Pain
  1124. ACETAMINOPHEN [Concomitant]
     Active Substance: ACETAMINOPHEN
  1125. ACETAMINOPHEN [Concomitant]
     Active Substance: ACETAMINOPHEN
     Route: 048
  1126. ACETAMINOPHEN [Concomitant]
     Active Substance: ACETAMINOPHEN
     Route: 048
  1127. ACETAMINOPHEN [Concomitant]
     Active Substance: ACETAMINOPHEN
  1128. ACETAMINOPHEN [Concomitant]
     Active Substance: ACETAMINOPHEN
  1129. ACETAMINOPHEN [Concomitant]
     Active Substance: ACETAMINOPHEN
     Route: 065
  1130. ACETAMINOPHEN [Concomitant]
     Active Substance: ACETAMINOPHEN
     Route: 065
  1131. ACETAMINOPHEN [Concomitant]
     Active Substance: ACETAMINOPHEN
     Dosage: 15 MILLIGRAM, QD
     Dates: start: 201510
  1132. ACETAMINOPHEN [Concomitant]
     Active Substance: ACETAMINOPHEN
     Dosage: 15 MILLIGRAM, QD
     Route: 065
     Dates: start: 201510
  1133. ACETAMINOPHEN [Concomitant]
     Active Substance: ACETAMINOPHEN
     Dosage: 15 MILLIGRAM, QD
     Dates: start: 201510
  1134. ACETAMINOPHEN [Concomitant]
     Active Substance: ACETAMINOPHEN
     Dosage: 15 MILLIGRAM, QD
     Route: 065
     Dates: start: 201510
  1135. TAZOBACTAM SODIUM [Concomitant]
     Active Substance: TAZOBACTAM SODIUM
     Indication: Febrile neutropenia
  1136. TAZOBACTAM SODIUM [Concomitant]
     Active Substance: TAZOBACTAM SODIUM
     Route: 065
  1137. TAZOBACTAM SODIUM [Concomitant]
     Active Substance: TAZOBACTAM SODIUM
     Route: 065
  1138. TAZOBACTAM SODIUM [Concomitant]
     Active Substance: TAZOBACTAM SODIUM
  1139. DULOXETINE [Concomitant]
     Active Substance: DULOXETINE
     Indication: Product used for unknown indication
  1140. DULOXETINE [Concomitant]
     Active Substance: DULOXETINE
     Route: 065
  1141. DULOXETINE [Concomitant]
     Active Substance: DULOXETINE
     Route: 065
  1142. DULOXETINE [Concomitant]
     Active Substance: DULOXETINE
  1143. CHOLECALCIFEROL [Concomitant]
     Active Substance: CHOLECALCIFEROL
     Indication: Product used for unknown indication
  1144. CHOLECALCIFEROL [Concomitant]
     Active Substance: CHOLECALCIFEROL
  1145. CHOLECALCIFEROL [Concomitant]
     Active Substance: CHOLECALCIFEROL
     Route: 048
  1146. CHOLECALCIFEROL [Concomitant]
     Active Substance: CHOLECALCIFEROL
     Route: 048
  1147. CHOLECALCIFEROL [Concomitant]
     Active Substance: CHOLECALCIFEROL
     Dosage: 2 DOSAGE FORM, QD
  1148. CHOLECALCIFEROL [Concomitant]
     Active Substance: CHOLECALCIFEROL
     Dosage: 2 DOSAGE FORM, QD
  1149. CHOLECALCIFEROL [Concomitant]
     Active Substance: CHOLECALCIFEROL
     Dosage: 2 DOSAGE FORM, QD
     Route: 065
  1150. CHOLECALCIFEROL [Concomitant]
     Active Substance: CHOLECALCIFEROL
     Dosage: 2 DOSAGE FORM, QD
     Route: 065

REACTIONS (31)
  - Disease progression [Fatal]
  - Delusion of grandeur [Fatal]
  - Schizophrenia [Fatal]
  - Extrapyramidal disorder [Fatal]
  - Affective disorder [Fatal]
  - Mucosal inflammation [Fatal]
  - Alopecia [Fatal]
  - Cellulitis [Fatal]
  - Rhinalgia [Fatal]
  - Neuropathy peripheral [Fatal]
  - Psychotic disorder [Fatal]
  - Platelet count decreased [Fatal]
  - Fatigue [Fatal]
  - Lymphocyte count abnormal [Fatal]
  - Lymphocyte count decreased [Fatal]
  - Leukopenia [Fatal]
  - Hallucination, auditory [Fatal]
  - Neutrophil count increased [Fatal]
  - Neutropenia [Fatal]
  - Diarrhoea [Fatal]
  - Dyspepsia [Fatal]
  - Nausea [Fatal]
  - Seizure [Fatal]
  - COVID-19 [Fatal]
  - Hospitalisation [Fatal]
  - SARS-CoV-2 test positive [Fatal]
  - Thrombocytopenia [Fatal]
  - Leukocytosis [Fatal]
  - Overdose [Fatal]
  - Incorrect dose administered [Fatal]
  - Off label use [Fatal]

NARRATIVE: CASE EVENT DATE: 20151101
